FAERS Safety Report 20673144 (Version 3)
Quarter: 2022Q3

REPORT INFORMATION
  Report Type: Spontaneous
  Country: CA (occurrence: CA)
  Receive Date: 20220405
  Receipt Date: 20220829
  Transmission Date: 20221027
  Serious: Yes (Hospitalization, Other)
  Sender: FDA-Public Use
  Company Number: None

PATIENT
  Age: 77 Year
  Sex: Female

DRUGS (745)
  1. NITROGLYCERIN [Suspect]
     Active Substance: NITROGLYCERIN
     Indication: Coronary artery disease
     Route: 061
  2. ACEBUTOLOL HYDROCHLORIDE [Suspect]
     Active Substance: ACEBUTOLOL HYDROCHLORIDE
     Indication: Hypertension
     Route: 065
  3. ACETAMINOPHEN [Suspect]
     Active Substance: ACETAMINOPHEN
     Indication: Pain
     Route: 065
  4. ACETAMINOPHEN\CAFFEINE [Suspect]
     Active Substance: ACETAMINOPHEN\CAFFEINE
     Indication: Radioactive iodine therapy
     Route: 065
  5. ASPIRIN [Suspect]
     Active Substance: ASPIRIN
     Indication: Product used for unknown indication
     Route: 065
  6. AGGRENOX [Suspect]
     Active Substance: ASPIRIN\DIPYRIDAMOLE
     Indication: Cerebrovascular accident
     Dosage: CAPSULE (IMMEDIATE AND EXTENDED RELEASE)
     Route: 065
  7. AMITRIPTYLINE HYDROCHLORIDE [Suspect]
     Active Substance: AMITRIPTYLINE HYDROCHLORIDE
     Indication: Thyroid disorder
     Route: 065
  8. AMLODIPINE BESYLATE [Suspect]
     Active Substance: AMLODIPINE BESYLATE
     Indication: Hypertension
     Route: 065
  9. AMLODIPINE MESYLATE [Suspect]
     Active Substance: AMLODIPINE MESYLATE
     Indication: Hypertension
     Route: 065
  10. AMITRIPTYLINE HYDROCHLORIDE [Suspect]
     Active Substance: AMITRIPTYLINE HYDROCHLORIDE
     Indication: Insomnia
     Route: 065
  11. CARBAMAZEPINE [Suspect]
     Active Substance: CARBAMAZEPINE
     Indication: Prophylaxis
     Route: 065
  12. CYCLOBENZAPRINE [Suspect]
     Active Substance: CYCLOBENZAPRINE
     Indication: Fibromyalgia
     Route: 065
  13. DILTIAZEM HYDROCHLORIDE [Suspect]
     Active Substance: DILTIAZEM HYDROCHLORIDE
     Indication: Hypertension
     Route: 065
  14. OXAZEPAM [Suspect]
     Active Substance: OXAZEPAM
     Indication: Insomnia
     Route: 065
  15. ASPIRIN [Suspect]
     Active Substance: ASPIRIN
     Indication: Product used for unknown indication
     Route: 065
  16. CAFFEINE [Suspect]
     Active Substance: CAFFEINE
     Indication: Product used for unknown indication
     Route: 065
  17. CALCIUM CARBONATE [Suspect]
     Active Substance: CALCIUM CARBONATE
     Indication: Product used for unknown indication
     Route: 065
  18. CARBAMAZEPINE [Suspect]
     Active Substance: CARBAMAZEPINE
     Indication: Seizure prophylaxis
     Route: 065
  19. CYCLOBENZAPRINE [Suspect]
     Active Substance: CYCLOBENZAPRINE
     Indication: Seizure prophylaxis
     Route: 065
  20. CYCLOBENZAPRINE HYDROCHLORIDE [Suspect]
     Active Substance: CYCLOBENZAPRINE HYDROCHLORIDE
     Indication: Fibromyalgia
     Route: 065
  21. DILTIAZEM [Suspect]
     Active Substance: DILTIAZEM
     Indication: Hypertension
     Route: 065
  22. DIPYRIDAMOLE [Suspect]
     Active Substance: DIPYRIDAMOLE
     Indication: Cerebrovascular accident
  23. DULCOLAX NOS [Suspect]
     Active Substance: BISACODYL OR DOCUSATE SODIUM
     Indication: Constipation
     Route: 048
  24. FRUCTOSE\GLYCERIN\SODIUM CHLORIDE [Suspect]
     Active Substance: FRUCTOSE\GLYCERIN\SODIUM CHLORIDE
     Indication: Product used for unknown indication
     Route: 065
  25. FUROSEMIDE [Suspect]
     Active Substance: FUROSEMIDE
     Indication: Oedema
     Route: 061
  26. GALANTAMINE [Suspect]
     Active Substance: GALANTAMINE
     Indication: Dementia
     Route: 065
  27. GALANTAMINE HYDROBROMIDE [Suspect]
     Active Substance: GALANTAMINE HYDROBROMIDE
     Indication: Product used for unknown indication
     Route: 065
  28. GLUCOSAMINE [Suspect]
     Active Substance: GLUCOSAMINE
     Indication: Pain
     Route: 065
  29. NITROGLYCERIN [Suspect]
     Active Substance: NITROGLYCERIN
     Indication: Hypertension
  30. LACTULOSE [Suspect]
     Active Substance: LACTULOSE
     Indication: Constipation
     Route: 048
  31. LEVOFLOXACIN [Suspect]
     Active Substance: LEVOFLOXACIN
     Indication: Urinary tract infection
     Route: 065
  32. LEVOTHYROXINE SODIUM [Suspect]
     Active Substance: LEVOTHYROXINE SODIUM
     Indication: Thyroid disorder
     Route: 065
  33. MAGNESIUM HYDROXIDE [Suspect]
     Active Substance: MAGNESIUM HYDROXIDE
     Indication: Constipation
     Route: 065
  34. MORPHINE SULFATE [Suspect]
     Active Substance: MORPHINE SULFATE
     Indication: Pain
     Dosage: LIQUID
     Route: 065
  35. OMEPRAZOLE [Suspect]
     Active Substance: OMEPRAZOLE
     Indication: Small intestine carcinoma
     Route: 048
  36. OXAZEPAM [Suspect]
     Active Substance: OXAZEPAM
     Indication: Insomnia
     Route: 048
  37. OXCARBAZEPINE [Suspect]
     Active Substance: OXCARBAZEPINE
     Indication: Product used for unknown indication
     Route: 065
  38. PERSANTINE [Suspect]
     Active Substance: DIPYRIDAMOLE
     Indication: Cerebrovascular accident
     Route: 065
  39. POLYSORBATE 85 [Suspect]
     Active Substance: POLYSORBATE 85
     Indication: Insomnia
     Route: 065
  40. POTASSIUM SORBATE [Suspect]
     Active Substance: POTASSIUM SORBATE
     Indication: Product used for unknown indication
     Route: 065
  41. QUINAPRIL HYDROCHLORIDE [Suspect]
     Active Substance: QUINAPRIL HYDROCHLORIDE
     Indication: Hypertension
     Route: 065
  42. ROSUVASTATIN CALCIUM [Suspect]
     Active Substance: ROSUVASTATIN CALCIUM
     Indication: Insomnia
     Route: 065
  43. ALBUTEROL [Suspect]
     Active Substance: ALBUTEROL
     Indication: Hypertension
     Route: 065
  44. SPIRIVA [Suspect]
     Active Substance: TIOTROPIUM BROMIDE MONOHYDRATE
     Indication: Chronic obstructive pulmonary disease
     Route: 065
  45. TIOTROPIUM BROMIDE [Suspect]
     Active Substance: TIOTROPIUM BROMIDE
     Indication: Product used for unknown indication
     Route: 048
  46. CRANBERRY [Suspect]
     Active Substance: CRANBERRY
     Indication: Bladder disorder
     Route: 065
  47. ACETAMINOPHEN [Concomitant]
     Active Substance: ACETAMINOPHEN
     Indication: Pain
     Route: 065
  48. CRANBERRY [Concomitant]
     Active Substance: CRANBERRY
     Indication: Bladder disorder
     Route: 065
  49. HERBALS\PLANTAGO OVATA LEAF [Concomitant]
     Active Substance: HERBALS\PLANTAGO OVATA LEAF
     Indication: Constipation
     Route: 065
  50. VITAMIN C [Concomitant]
     Active Substance: ASCORBIC ACID
     Indication: Product used for unknown indication
     Route: 065
  51. ZINC SALICYLATE [Concomitant]
     Active Substance: ZINC SALICYLATE
     Indication: Product used for unknown indication
     Route: 065
  52. ZINC SULFATE [Concomitant]
     Active Substance: ZINC SULFATE
     Indication: Product used for unknown indication
     Route: 065
  53. AMITRIPTYLINE [Suspect]
     Active Substance: AMITRIPTYLINE
     Indication: Thyroid disorder
     Route: 065
  54. AMLODIPINE [Suspect]
     Active Substance: AMLODIPINE BESYLATE
     Indication: Product used for unknown indication
  55. BISACODYL [Suspect]
     Active Substance: BISACODYL
     Indication: Product used for unknown indication
     Route: 065
  56. ASCORBIC ACID W/VACCINIUM MACROCARPON [Concomitant]
     Indication: Product used for unknown indication
     Route: 065
  57. DILTIAZEM HYDROCHLORIDE [Suspect]
     Active Substance: DILTIAZEM HYDROCHLORIDE
     Indication: Product used for unknown indication
     Route: 065
  58. TIOTROPIUM BROMIDE MONOHYDRATE [Suspect]
     Active Substance: TIOTROPIUM BROMIDE MONOHYDRATE
     Indication: Product used for unknown indication
     Route: 065
  59. NITROGLYCERIN [Suspect]
     Active Substance: NITROGLYCERIN
     Indication: Chest pain
     Route: 061
  60. NITROGLYCERIN [Suspect]
     Active Substance: NITROGLYCERIN
     Indication: Coronary artery disease
     Route: 065
  61. ACEBUTOLOL HYDROCHLORIDE [Suspect]
     Active Substance: ACEBUTOLOL HYDROCHLORIDE
     Indication: Coronary artery disease
     Route: 065
  62. ACEBUTOLOL HYDROCHLORIDE [Suspect]
     Active Substance: ACEBUTOLOL HYDROCHLORIDE
     Indication: Chest pain
     Route: 065
  63. ACEBUTOLOL HYDROCHLORIDE [Suspect]
     Active Substance: ACEBUTOLOL HYDROCHLORIDE
     Indication: Constipation
     Route: 065
  64. ACEBUTOLOL HYDROCHLORIDE [Suspect]
     Active Substance: ACEBUTOLOL HYDROCHLORIDE
     Indication: Coronary artery disease
     Route: 065
  65. ACEBUTOLOL HYDROCHLORIDE [Suspect]
     Active Substance: ACEBUTOLOL HYDROCHLORIDE
     Indication: Hypertension
     Route: 065
  66. ACEBUTOLOL HYDROCHLORIDE [Suspect]
     Active Substance: ACEBUTOLOL HYDROCHLORIDE
     Indication: Constipation
     Route: 065
  67. ACEBUTOLOL HYDROCHLORIDE [Suspect]
     Active Substance: ACEBUTOLOL HYDROCHLORIDE
     Indication: Constipation
     Route: 065
  68. ACEBUTOLOL HYDROCHLORIDE [Suspect]
     Active Substance: ACEBUTOLOL HYDROCHLORIDE
     Indication: Chest pain
     Route: 065
  69. ACEBUTOLOL HYDROCHLORIDE [Suspect]
     Active Substance: ACEBUTOLOL HYDROCHLORIDE
     Indication: Coronary artery disease
     Route: 065
  70. ACEBUTOLOL HYDROCHLORIDE [Suspect]
     Active Substance: ACEBUTOLOL HYDROCHLORIDE
     Indication: Angina pectoris
     Route: 065
  71. ACEBUTOLOL HYDROCHLORIDE [Suspect]
     Active Substance: ACEBUTOLOL HYDROCHLORIDE
     Indication: Coronary artery disease
     Route: 065
  72. ACEBUTOLOL HYDROCHLORIDE [Suspect]
     Active Substance: ACEBUTOLOL HYDROCHLORIDE
     Indication: Constipation
     Route: 065
  73. ACEBUTOLOL HYDROCHLORIDE [Suspect]
     Active Substance: ACEBUTOLOL HYDROCHLORIDE
     Indication: Constipation
     Route: 065
  74. ACEBUTOLOL HYDROCHLORIDE [Suspect]
     Active Substance: ACEBUTOLOL HYDROCHLORIDE
     Indication: Angina pectoris
     Route: 065
  75. ACEBUTOLOL HYDROCHLORIDE [Suspect]
     Active Substance: ACEBUTOLOL HYDROCHLORIDE
     Indication: Coronary artery disease
     Route: 065
  76. ACETAMINOPHEN\CAFFEINE [Suspect]
     Active Substance: ACETAMINOPHEN\CAFFEINE
     Indication: Chest pain
     Route: 065
  77. ACETAMINOPHEN\CAFFEINE [Suspect]
     Active Substance: ACETAMINOPHEN\CAFFEINE
     Indication: Radioactive iodine therapy
     Route: 065
  78. ACETAMINOPHEN\CAFFEINE [Suspect]
     Active Substance: ACETAMINOPHEN\CAFFEINE
     Indication: Cerebrovascular accident
     Route: 065
  79. ACETAMINOPHEN\CAFFEINE [Suspect]
     Active Substance: ACETAMINOPHEN\CAFFEINE
     Indication: Radioactive iodine therapy
     Route: 065
  80. ACETAMINOPHEN\CAFFEINE [Suspect]
     Active Substance: ACETAMINOPHEN\CAFFEINE
     Indication: Pain
     Route: 065
  81. ACETAMINOPHEN\CAFFEINE [Suspect]
     Active Substance: ACETAMINOPHEN\CAFFEINE
     Indication: Radioactive iodine therapy
     Route: 065
  82. ACETAMINOPHEN\CAFFEINE [Suspect]
     Active Substance: ACETAMINOPHEN\CAFFEINE
     Indication: Pain
     Route: 065
  83. AGGRENOX [Suspect]
     Active Substance: ASPIRIN\DIPYRIDAMOLE
     Indication: Cerebrovascular accident
     Route: 065
  84. AMITRIPTYLINE HYDROCHLORIDE [Suspect]
     Active Substance: AMITRIPTYLINE HYDROCHLORIDE
     Indication: Radioactive iodine therapy
     Route: 065
  85. AMITRIPTYLINE HYDROCHLORIDE [Suspect]
     Active Substance: AMITRIPTYLINE HYDROCHLORIDE
     Indication: Pain
     Route: 065
  86. AMITRIPTYLINE HYDROCHLORIDE [Suspect]
     Active Substance: AMITRIPTYLINE HYDROCHLORIDE
     Indication: Insomnia
     Route: 065
  87. AMITRIPTYLINE HYDROCHLORIDE [Suspect]
     Active Substance: AMITRIPTYLINE HYDROCHLORIDE
     Indication: Hypertension
     Route: 065
  88. AMITRIPTYLINE HYDROCHLORIDE [Suspect]
     Active Substance: AMITRIPTYLINE HYDROCHLORIDE
     Indication: Coronary artery disease
     Route: 065
  89. AMITRIPTYLINE HYDROCHLORIDE [Suspect]
     Active Substance: AMITRIPTYLINE HYDROCHLORIDE
     Indication: Arthritis
     Route: 065
  90. AMITRIPTYLINE HYDROCHLORIDE [Suspect]
     Active Substance: AMITRIPTYLINE HYDROCHLORIDE
     Indication: Duodenal ulcer
     Route: 065
  91. AMITRIPTYLINE HYDROCHLORIDE [Suspect]
     Active Substance: AMITRIPTYLINE HYDROCHLORIDE
     Indication: Arthritis
     Route: 065
  92. AMITRIPTYLINE HYDROCHLORIDE [Suspect]
     Active Substance: AMITRIPTYLINE HYDROCHLORIDE
     Indication: Angina pectoris
     Route: 065
  93. AMITRIPTYLINE HYDROCHLORIDE [Suspect]
     Active Substance: AMITRIPTYLINE HYDROCHLORIDE
     Indication: Pain
     Route: 065
  94. AMITRIPTYLINE HYDROCHLORIDE [Suspect]
     Active Substance: AMITRIPTYLINE HYDROCHLORIDE
     Indication: Insomnia
     Route: 065
  95. AMITRIPTYLINE HYDROCHLORIDE [Suspect]
     Active Substance: AMITRIPTYLINE HYDROCHLORIDE
     Indication: Coronary artery disease
     Route: 065
  96. AMITRIPTYLINE HYDROCHLORIDE [Suspect]
     Active Substance: AMITRIPTYLINE HYDROCHLORIDE
     Indication: Fibromyalgia
     Route: 065
  97. AMITRIPTYLINE HYDROCHLORIDE [Suspect]
     Active Substance: AMITRIPTYLINE HYDROCHLORIDE
     Indication: Constipation
     Route: 065
  98. AMITRIPTYLINE HYDROCHLORIDE [Suspect]
     Active Substance: AMITRIPTYLINE HYDROCHLORIDE
     Indication: Angina pectoris
     Route: 048
  99. AMLODIPINE BESYLATE [Suspect]
     Active Substance: AMLODIPINE BESYLATE
     Indication: Coronary artery disease
     Route: 065
  100. AMLODIPINE BESYLATE [Suspect]
     Active Substance: AMLODIPINE BESYLATE
     Indication: Constipation
     Route: 065
  101. AMLODIPINE BESYLATE [Suspect]
     Active Substance: AMLODIPINE BESYLATE
     Indication: Constipation
     Route: 065
  102. AMLODIPINE BESYLATE [Suspect]
     Active Substance: AMLODIPINE BESYLATE
     Indication: Chest pain
     Route: 065
  103. AMLODIPINE MESYLATE [Suspect]
     Active Substance: AMLODIPINE MESYLATE
     Indication: Angina pectoris
     Route: 065
  104. CARBAMAZEPINE [Suspect]
     Active Substance: CARBAMAZEPINE
     Indication: Fibromyalgia
     Route: 065
  105. CARBAMAZEPINE [Suspect]
     Active Substance: CARBAMAZEPINE
     Indication: Prophylaxis
     Route: 065
  106. DILTIAZEM HYDROCHLORIDE [Suspect]
     Active Substance: DILTIAZEM HYDROCHLORIDE
     Indication: Angina pectoris
     Route: 065
  107. OXAZEPAM [Suspect]
     Active Substance: OXAZEPAM
     Indication: Insomnia
     Route: 065
  108. ASPIRIN [Suspect]
     Active Substance: ASPIRIN
     Indication: Coronary artery disease
     Route: 065
  109. CARBAMAZEPINE [Suspect]
     Active Substance: CARBAMAZEPINE
     Indication: Seizure
     Route: 065
  110. CARBAMAZEPINE [Suspect]
     Active Substance: CARBAMAZEPINE
     Indication: Seizure prophylaxis
     Route: 065
  111. CARBAMAZEPINE [Suspect]
     Active Substance: CARBAMAZEPINE
     Indication: Fibromyalgia
     Route: 065
  112. CARBAMAZEPINE [Suspect]
     Active Substance: CARBAMAZEPINE
     Indication: Fibromyalgia
     Route: 065
  113. CARBAMAZEPINE [Suspect]
     Active Substance: CARBAMAZEPINE
     Indication: Seizure
     Route: 065
  114. CARBAMAZEPINE [Suspect]
     Active Substance: CARBAMAZEPINE
     Indication: Fibromyalgia
     Route: 065
  115. CYCLOBENZAPRINE [Suspect]
     Active Substance: CYCLOBENZAPRINE
     Indication: Seizure prophylaxis
     Route: 065
  116. CYCLOBENZAPRINE [Suspect]
     Active Substance: CYCLOBENZAPRINE
     Indication: Seizure prophylaxis
     Route: 065
  117. CYCLOBENZAPRINE [Suspect]
     Active Substance: CYCLOBENZAPRINE
     Indication: Seizure prophylaxis
     Route: 065
  118. CYCLOBENZAPRINE [Suspect]
     Active Substance: CYCLOBENZAPRINE
     Indication: Seizure
     Route: 065
  119. CYCLOBENZAPRINE [Suspect]
     Active Substance: CYCLOBENZAPRINE
     Indication: Seizure
     Route: 065
  120. CYCLOBENZAPRINE HYDROCHLORIDE [Suspect]
     Active Substance: CYCLOBENZAPRINE HYDROCHLORIDE
     Indication: Fibromyalgia
     Route: 065
  121. DILTIAZEM [Suspect]
     Active Substance: DILTIAZEM
     Indication: Chest pain
     Route: 065
  122. DILTIAZEM [Suspect]
     Active Substance: DILTIAZEM
     Indication: Angina pectoris
     Route: 065
  123. DILTIAZEM [Suspect]
     Active Substance: DILTIAZEM
     Indication: Hypertension
     Route: 065
  124. DILTIAZEM [Suspect]
     Active Substance: DILTIAZEM
     Indication: Coronary artery disease
     Route: 065
  125. DIPYRIDAMOLE [Suspect]
     Active Substance: DIPYRIDAMOLE
     Indication: Cerebrovascular accident
     Route: 065
  126. DIPYRIDAMOLE [Suspect]
     Active Substance: DIPYRIDAMOLE
     Indication: Cerebrovascular accident
     Route: 065
  127. DULCOLAX NOS [Suspect]
     Active Substance: BISACODYL OR DOCUSATE SODIUM
     Indication: Constipation
     Route: 065
  128. FUROSEMIDE [Suspect]
     Active Substance: FUROSEMIDE
     Indication: Coronary artery disease
     Route: 061
  129. FUROSEMIDE [Suspect]
     Active Substance: FUROSEMIDE
     Indication: Coronary artery disease
     Route: 065
  130. FUROSEMIDE [Suspect]
     Active Substance: FUROSEMIDE
     Indication: Coronary artery disease
     Route: 065
  131. GALANTAMINE [Suspect]
     Active Substance: GALANTAMINE
     Indication: Dementia
     Route: 065
  132. GLUCOSAMINE [Suspect]
     Active Substance: GLUCOSAMINE
     Indication: Pain
     Route: 065
  133. GLUCOSAMINE [Suspect]
     Active Substance: GLUCOSAMINE
     Indication: Arthritis
     Route: 065
  134. NITROGLYCERIN [Suspect]
     Active Substance: NITROGLYCERIN
     Indication: Angina pectoris
     Route: 061
  135. NITROGLYCERIN [Suspect]
     Active Substance: NITROGLYCERIN
     Indication: Hypertension
     Route: 065
  136. NITROGLYCERIN [Suspect]
     Active Substance: NITROGLYCERIN
     Indication: Coronary artery disease
     Route: 065
  137. LACTULOSE [Suspect]
     Active Substance: LACTULOSE
     Indication: Constipation
     Route: 048
  138. LACTULOSE [Suspect]
     Active Substance: LACTULOSE
     Indication: Constipation
     Route: 065
  139. LEVOFLOXACIN [Suspect]
     Active Substance: LEVOFLOXACIN
     Indication: Urinary tract infection
     Route: 065
  140. LEVOTHYROXINE SODIUM [Suspect]
     Active Substance: LEVOTHYROXINE SODIUM
     Indication: Thyroid disorder
     Route: 065
  141. MAGNESIUM HYDROXIDE [Suspect]
     Active Substance: MAGNESIUM HYDROXIDE
     Indication: Constipation
     Route: 065
  142. MORPHINE SULFATE [Suspect]
     Active Substance: MORPHINE SULFATE
     Indication: Fibromyalgia
     Dosage: LIQUID
     Route: 065
  143. MORPHINE SULFATE [Suspect]
     Active Substance: MORPHINE SULFATE
     Indication: Fibromyalgia
     Dosage: LIQUID
     Route: 030
  144. MORPHINE SULFATE [Suspect]
     Active Substance: MORPHINE SULFATE
     Indication: Product used for unknown indication
     Route: 065
  145. MORPHINE SULFATE [Suspect]
     Active Substance: MORPHINE SULFATE
     Indication: Fibromyalgia
     Dosage: LIQUID
     Route: 065
  146. MORPHINE SULFATE [Suspect]
     Active Substance: MORPHINE SULFATE
     Indication: Fibromyalgia
     Dosage: LIQUID
     Route: 065
  147. MORPHINE SULFATE [Suspect]
     Active Substance: MORPHINE SULFATE
     Indication: Product used for unknown indication
     Route: 065
  148. OMEPRAZOLE [Suspect]
     Active Substance: OMEPRAZOLE
     Indication: Chest pain
     Route: 048
  149. OMEPRAZOLE [Suspect]
     Active Substance: OMEPRAZOLE
     Indication: Coronary artery disease
     Route: 048
  150. OMEPRAZOLE [Suspect]
     Active Substance: OMEPRAZOLE
     Indication: Chest pain
     Route: 048
  151. OXAZEPAM [Suspect]
     Active Substance: OXAZEPAM
     Indication: Coronary artery disease
     Route: 048
  152. OXAZEPAM [Suspect]
     Active Substance: OXAZEPAM
     Indication: Coronary artery disease
     Route: 048
  153. OXAZEPAM [Suspect]
     Active Substance: OXAZEPAM
     Indication: Coronary artery disease
     Route: 065
  154. OXAZEPAM [Suspect]
     Active Substance: OXAZEPAM
     Indication: Angina pectoris
     Route: 065
  155. OXAZEPAM [Suspect]
     Active Substance: OXAZEPAM
     Indication: Insomnia
     Route: 065
  156. OXAZEPAM [Suspect]
     Active Substance: OXAZEPAM
     Indication: Hypertension
     Route: 065
  157. OXAZEPAM [Suspect]
     Active Substance: OXAZEPAM
     Indication: Coronary artery disease
     Route: 065
  158. OXAZEPAM [Suspect]
     Active Substance: OXAZEPAM
     Indication: Angina pectoris
     Route: 065
  159. OXAZEPAM [Suspect]
     Active Substance: OXAZEPAM
     Indication: Hypertension
     Route: 065
  160. OXAZEPAM [Suspect]
     Active Substance: OXAZEPAM
     Indication: Hypertension
     Route: 048
  161. OXAZEPAM [Suspect]
     Active Substance: OXAZEPAM
     Indication: Coronary artery disease
     Route: 048
  162. PERSANTINE [Suspect]
     Active Substance: DIPYRIDAMOLE
     Indication: Cerebrovascular accident
     Route: 065
  163. QUINAPRIL HYDROCHLORIDE [Suspect]
     Active Substance: QUINAPRIL HYDROCHLORIDE
     Indication: Hypertension
     Route: 065
  164. QUINAPRIL HYDROCHLORIDE [Suspect]
     Active Substance: QUINAPRIL HYDROCHLORIDE
     Indication: Coronary artery disease
     Route: 065
  165. QUINAPRIL HYDROCHLORIDE [Suspect]
     Active Substance: QUINAPRIL HYDROCHLORIDE
     Indication: Angina pectoris
     Route: 065
  166. QUINAPRIL HYDROCHLORIDE [Suspect]
     Active Substance: QUINAPRIL HYDROCHLORIDE
     Indication: Hypertension
     Route: 065
  167. QUINAPRIL HYDROCHLORIDE [Suspect]
     Active Substance: QUINAPRIL HYDROCHLORIDE
     Indication: Chest pain
     Route: 065
  168. QUINAPRIL HYDROCHLORIDE [Suspect]
     Active Substance: QUINAPRIL HYDROCHLORIDE
     Indication: Chest pain
     Route: 065
  169. QUINAPRIL HYDROCHLORIDE [Suspect]
     Active Substance: QUINAPRIL HYDROCHLORIDE
     Indication: Angina pectoris
     Route: 065
  170. ROSUVASTATIN CALCIUM [Suspect]
     Active Substance: ROSUVASTATIN CALCIUM
     Indication: Coronary artery disease
     Route: 065
  171. ROSUVASTATIN CALCIUM [Suspect]
     Active Substance: ROSUVASTATIN CALCIUM
     Indication: Cerebrovascular accident
     Route: 065
  172. ROSUVASTATIN CALCIUM [Suspect]
     Active Substance: ROSUVASTATIN CALCIUM
     Indication: Angina pectoris
     Route: 065
  173. ROSUVASTATIN CALCIUM [Suspect]
     Active Substance: ROSUVASTATIN CALCIUM
     Indication: Hypertension
     Route: 065
  174. ROSUVASTATIN CALCIUM [Suspect]
     Active Substance: ROSUVASTATIN CALCIUM
     Indication: Coronary artery disease
     Route: 065
  175. ROSUVASTATIN CALCIUM [Suspect]
     Active Substance: ROSUVASTATIN CALCIUM
     Indication: Chest pain
     Route: 048
  176. ROSUVASTATIN CALCIUM [Suspect]
     Active Substance: ROSUVASTATIN CALCIUM
     Indication: Insomnia
     Route: 048
  177. ROSUVASTATIN CALCIUM [Suspect]
     Active Substance: ROSUVASTATIN CALCIUM
     Indication: Chest pain
     Route: 048
  178. ROSUVASTATIN CALCIUM [Suspect]
     Active Substance: ROSUVASTATIN CALCIUM
     Indication: Chronic obstructive pulmonary disease
     Route: 048
  179. ROSUVASTATIN CALCIUM [Suspect]
     Active Substance: ROSUVASTATIN CALCIUM
     Indication: Chest pain
     Route: 048
  180. ROSUVASTATIN CALCIUM [Suspect]
     Active Substance: ROSUVASTATIN CALCIUM
     Indication: Angina pectoris
     Route: 048
  181. ROSUVASTATIN CALCIUM [Suspect]
     Active Substance: ROSUVASTATIN CALCIUM
     Indication: Hypertension
     Route: 065
  182. ROSUVASTATIN CALCIUM [Suspect]
     Active Substance: ROSUVASTATIN CALCIUM
     Indication: Chest pain
     Route: 065
  183. ALBUTEROL [Suspect]
     Active Substance: ALBUTEROL
     Indication: Hypertension
     Route: 065
  184. ALBUTEROL [Suspect]
     Active Substance: ALBUTEROL
     Indication: Hypertension
     Route: 065
  185. ALBUTEROL [Suspect]
     Active Substance: ALBUTEROL
     Indication: Coronary artery disease
     Route: 065
  186. ALBUTEROL [Suspect]
     Active Substance: ALBUTEROL
     Indication: Hypertension
     Route: 065
  187. ALBUTEROL [Suspect]
     Active Substance: ALBUTEROL
     Indication: Angina pectoris
     Route: 065
  188. ALBUTEROL [Suspect]
     Active Substance: ALBUTEROL
     Indication: Hypertension
     Route: 065
  189. ALBUTEROL [Suspect]
     Active Substance: ALBUTEROL
     Indication: Chest pain
     Route: 065
  190. ALBUTEROL [Suspect]
     Active Substance: ALBUTEROL
     Indication: Angina pectoris
     Route: 065
  191. CRANBERRY [Suspect]
     Active Substance: CRANBERRY
     Indication: Product used for unknown indication
     Route: 065
  192. VITAMIN C [Concomitant]
     Active Substance: ASCORBIC ACID
     Indication: Product used for unknown indication
     Route: 065
  193. ACEBUTOLOL HYDROCHLORIDE [Suspect]
     Active Substance: ACEBUTOLOL HYDROCHLORIDE
     Indication: Product used for unknown indication
     Route: 065
  194. AMITRIPTYLINE [Suspect]
     Active Substance: AMITRIPTYLINE
     Indication: Fibromyalgia
     Route: 065
  195. AMITRIPTYLINE [Suspect]
     Active Substance: AMITRIPTYLINE
     Indication: Dementia
     Route: 065
  196. AMITRIPTYLINE [Suspect]
     Active Substance: AMITRIPTYLINE
     Indication: Arthritis
     Route: 065
  197. AMITRIPTYLINE [Suspect]
     Active Substance: AMITRIPTYLINE
     Indication: Fibromyalgia
     Route: 065
  198. AMITRIPTYLINE [Suspect]
     Active Substance: AMITRIPTYLINE
     Indication: Arthritis
     Route: 065
  199. AMITRIPTYLINE [Suspect]
     Active Substance: AMITRIPTYLINE
     Indication: Thyroid disorder
     Route: 065
  200. AMITRIPTYLINE [Suspect]
     Active Substance: AMITRIPTYLINE
     Indication: Prophylaxis
     Route: 065
  201. AMITRIPTYLINE [Suspect]
     Active Substance: AMITRIPTYLINE
     Indication: Constipation
     Route: 065
  202. AMITRIPTYLINE [Suspect]
     Active Substance: AMITRIPTYLINE
     Indication: Arthritis
     Route: 065
  203. AMITRIPTYLINE [Suspect]
     Active Substance: AMITRIPTYLINE
     Indication: Radioactive iodine therapy
     Route: 048
  204. AMITRIPTYLINE [Suspect]
     Active Substance: AMITRIPTYLINE
     Indication: Hypertension
     Route: 048
  205. AMITRIPTYLINE [Suspect]
     Active Substance: AMITRIPTYLINE
     Indication: Dementia
     Route: 048
  206. AMITRIPTYLINE [Suspect]
     Active Substance: AMITRIPTYLINE
     Indication: Chest pain
     Route: 048
  207. AMITRIPTYLINE [Suspect]
     Active Substance: AMITRIPTYLINE
     Indication: Angina pectoris
     Route: 048
  208. AMLODIPINE [Suspect]
     Active Substance: AMLODIPINE BESYLATE
     Indication: Hypertension
     Route: 065
  209. AMLODIPINE [Suspect]
     Active Substance: AMLODIPINE BESYLATE
     Indication: Coronary artery disease
     Route: 065
  210. AMLODIPINE [Suspect]
     Active Substance: AMLODIPINE BESYLATE
     Indication: Hypertension
     Route: 065
  211. AMLODIPINE [Suspect]
     Active Substance: AMLODIPINE BESYLATE
     Indication: Coronary artery disease
     Route: 065
  212. BISACODYL [Suspect]
     Active Substance: BISACODYL
     Indication: Product used for unknown indication
     Route: 065
  213. BISACODYL [Suspect]
     Active Substance: BISACODYL
     Indication: Product used for unknown indication
     Route: 065
  214. BISACODYL [Suspect]
     Active Substance: BISACODYL
     Indication: Constipation
     Route: 065
  215. ACEBUTOLOL HYDROCHLORIDE [Suspect]
     Active Substance: ACEBUTOLOL HYDROCHLORIDE
     Indication: Constipation
     Route: 065
  216. ACEBUTOLOL HYDROCHLORIDE [Suspect]
     Active Substance: ACEBUTOLOL HYDROCHLORIDE
     Indication: Coronary artery disease
     Route: 065
  217. ACEBUTOLOL HYDROCHLORIDE [Suspect]
     Active Substance: ACEBUTOLOL HYDROCHLORIDE
     Indication: Angina pectoris
     Route: 065
  218. ACEBUTOLOL HYDROCHLORIDE [Suspect]
     Active Substance: ACEBUTOLOL HYDROCHLORIDE
     Indication: Constipation
     Route: 065
  219. ACEBUTOLOL HYDROCHLORIDE [Suspect]
     Active Substance: ACEBUTOLOL HYDROCHLORIDE
     Indication: Angina pectoris
     Route: 065
  220. ACEBUTOLOL HYDROCHLORIDE [Suspect]
     Active Substance: ACEBUTOLOL HYDROCHLORIDE
     Indication: Product used for unknown indication
     Route: 065
  221. ACEBUTOLOL HYDROCHLORIDE [Suspect]
     Active Substance: ACEBUTOLOL HYDROCHLORIDE
     Indication: Coronary artery disease
     Route: 065
  222. AMLODIPINE MESYLATE [Suspect]
     Active Substance: AMLODIPINE MESYLATE
     Indication: Coronary artery disease
     Route: 065
  223. DILTIAZEM HYDROCHLORIDE [Suspect]
     Active Substance: DILTIAZEM HYDROCHLORIDE
     Indication: Chest pain
     Route: 065
  224. DILTIAZEM HYDROCHLORIDE [Suspect]
     Active Substance: DILTIAZEM HYDROCHLORIDE
     Indication: Angina pectoris
     Route: 065
  225. DILTIAZEM HYDROCHLORIDE [Suspect]
     Active Substance: DILTIAZEM HYDROCHLORIDE
     Indication: Coronary artery disease
     Route: 065
  226. DILTIAZEM HYDROCHLORIDE [Suspect]
     Active Substance: DILTIAZEM HYDROCHLORIDE
     Indication: Product used for unknown indication
     Route: 065
  227. DILTIAZEM HYDROCHLORIDE [Suspect]
     Active Substance: DILTIAZEM HYDROCHLORIDE
     Indication: Chest pain
     Route: 065
  228. DILTIAZEM HYDROCHLORIDE [Suspect]
     Active Substance: DILTIAZEM HYDROCHLORIDE
     Indication: Coronary artery disease
     Route: 065
  229. DILTIAZEM HYDROCHLORIDE [Suspect]
     Active Substance: DILTIAZEM HYDROCHLORIDE
     Indication: Chest pain
     Route: 065
  230. ACEBUTOLOL HYDROCHLORIDE [Suspect]
     Active Substance: ACEBUTOLOL HYDROCHLORIDE
     Indication: Hypertension
     Route: 065
  231. NITROGLYCERIN [Suspect]
     Active Substance: NITROGLYCERIN
     Indication: Coronary artery disease
     Route: 065
  232. NITROGLYCERIN [Suspect]
     Active Substance: NITROGLYCERIN
     Indication: Coronary artery disease
     Route: 065
  233. ACEBUTOLOL HYDROCHLORIDE [Suspect]
     Active Substance: ACEBUTOLOL HYDROCHLORIDE
     Indication: Constipation
     Route: 065
  234. ACEBUTOLOL HYDROCHLORIDE [Suspect]
     Active Substance: ACEBUTOLOL HYDROCHLORIDE
     Indication: Constipation
     Route: 065
  235. ACEBUTOLOL HYDROCHLORIDE [Suspect]
     Active Substance: ACEBUTOLOL HYDROCHLORIDE
     Indication: Hypertension
     Route: 065
  236. ACEBUTOLOL HYDROCHLORIDE [Suspect]
     Active Substance: ACEBUTOLOL HYDROCHLORIDE
     Indication: Angina pectoris
     Route: 065
  237. ACEBUTOLOL HYDROCHLORIDE [Suspect]
     Active Substance: ACEBUTOLOL HYDROCHLORIDE
     Indication: Chest pain
     Route: 065
  238. ACEBUTOLOL HYDROCHLORIDE [Suspect]
     Active Substance: ACEBUTOLOL HYDROCHLORIDE
     Indication: Angina pectoris
     Route: 065
  239. ACEBUTOLOL HYDROCHLORIDE [Suspect]
     Active Substance: ACEBUTOLOL HYDROCHLORIDE
     Indication: Hypertension
     Route: 065
  240. ACEBUTOLOL HYDROCHLORIDE [Suspect]
     Active Substance: ACEBUTOLOL HYDROCHLORIDE
     Indication: Constipation
     Route: 065
  241. ACEBUTOLOL HYDROCHLORIDE [Suspect]
     Active Substance: ACEBUTOLOL HYDROCHLORIDE
     Indication: Hypertension
     Route: 065
  242. ACEBUTOLOL HYDROCHLORIDE [Suspect]
     Active Substance: ACEBUTOLOL HYDROCHLORIDE
     Indication: Chest pain
     Route: 065
  243. ACEBUTOLOL HYDROCHLORIDE [Suspect]
     Active Substance: ACEBUTOLOL HYDROCHLORIDE
     Indication: Angina pectoris
     Route: 065
  244. ACEBUTOLOL HYDROCHLORIDE [Suspect]
     Active Substance: ACEBUTOLOL HYDROCHLORIDE
     Indication: Coronary artery disease
     Route: 065
  245. ACEBUTOLOL HYDROCHLORIDE [Suspect]
     Active Substance: ACEBUTOLOL HYDROCHLORIDE
     Indication: Coronary artery disease
     Route: 065
  246. ACEBUTOLOL HYDROCHLORIDE [Suspect]
     Active Substance: ACEBUTOLOL HYDROCHLORIDE
     Indication: Chest pain
     Route: 065
  247. ACETAMINOPHEN\CAFFEINE [Suspect]
     Active Substance: ACETAMINOPHEN\CAFFEINE
     Indication: Pain
     Route: 065
  248. ACETAMINOPHEN\CAFFEINE [Suspect]
     Active Substance: ACETAMINOPHEN\CAFFEINE
     Indication: Hypertension
     Route: 065
  249. ACETAMINOPHEN\CAFFEINE [Suspect]
     Active Substance: ACETAMINOPHEN\CAFFEINE
     Indication: Cerebrovascular accident
     Route: 065
  250. ACETAMINOPHEN\CAFFEINE [Suspect]
     Active Substance: ACETAMINOPHEN\CAFFEINE
     Indication: Chronic obstructive pulmonary disease
     Route: 065
  251. ACETAMINOPHEN\CAFFEINE [Suspect]
     Active Substance: ACETAMINOPHEN\CAFFEINE
     Indication: Chest pain
     Route: 065
  252. ACETAMINOPHEN\CAFFEINE [Suspect]
     Active Substance: ACETAMINOPHEN\CAFFEINE
     Indication: Hypertension
     Route: 065
  253. ACETAMINOPHEN\CAFFEINE [Suspect]
     Active Substance: ACETAMINOPHEN\CAFFEINE
     Indication: Coronary artery disease
     Route: 065
  254. ACETAMINOPHEN\CAFFEINE [Suspect]
     Active Substance: ACETAMINOPHEN\CAFFEINE
     Indication: Cerebrovascular accident
     Route: 065
  255. ACETAMINOPHEN\CAFFEINE [Suspect]
     Active Substance: ACETAMINOPHEN\CAFFEINE
     Indication: Coronary artery disease
     Route: 065
  256. ACETAMINOPHEN\CAFFEINE [Suspect]
     Active Substance: ACETAMINOPHEN\CAFFEINE
     Indication: Chronic obstructive pulmonary disease
     Route: 065
  257. ACETAMINOPHEN\CAFFEINE [Suspect]
     Active Substance: ACETAMINOPHEN\CAFFEINE
     Indication: Chest pain
     Route: 065
  258. AGGRENOX [Suspect]
     Active Substance: ASPIRIN\DIPYRIDAMOLE
     Indication: Cerebrovascular accident
     Dosage: CAPSULE (IMMEDIATE AND EXTENDED RELEASE)
     Route: 065
  259. AGGRENOX [Suspect]
     Active Substance: ASPIRIN\DIPYRIDAMOLE
     Indication: Cerebrovascular accident
     Route: 065
  260. AGGRENOX [Suspect]
     Active Substance: ASPIRIN\DIPYRIDAMOLE
     Indication: Cerebrovascular accident
     Route: 065
  261. AGGRENOX [Suspect]
     Active Substance: ASPIRIN\DIPYRIDAMOLE
     Indication: Cerebrovascular accident
     Route: 065
  262. AMITRIPTYLINE HYDROCHLORIDE [Suspect]
     Active Substance: AMITRIPTYLINE HYDROCHLORIDE
     Indication: Angina pectoris
     Route: 065
  263. AMITRIPTYLINE HYDROCHLORIDE [Suspect]
     Active Substance: AMITRIPTYLINE HYDROCHLORIDE
     Indication: Pain
     Route: 065
  264. AMITRIPTYLINE HYDROCHLORIDE [Suspect]
     Active Substance: AMITRIPTYLINE HYDROCHLORIDE
     Indication: Hypertension
     Route: 065
  265. AMITRIPTYLINE HYDROCHLORIDE [Suspect]
     Active Substance: AMITRIPTYLINE HYDROCHLORIDE
     Indication: Fibromyalgia
     Route: 065
  266. AMITRIPTYLINE HYDROCHLORIDE [Suspect]
     Active Substance: AMITRIPTYLINE HYDROCHLORIDE
     Indication: Dementia
     Route: 065
  267. AMITRIPTYLINE HYDROCHLORIDE [Suspect]
     Active Substance: AMITRIPTYLINE HYDROCHLORIDE
     Indication: Constipation
     Route: 065
  268. AMITRIPTYLINE HYDROCHLORIDE [Suspect]
     Active Substance: AMITRIPTYLINE HYDROCHLORIDE
     Indication: Chest pain
     Route: 065
  269. AMITRIPTYLINE HYDROCHLORIDE [Suspect]
     Active Substance: AMITRIPTYLINE HYDROCHLORIDE
     Indication: Thyroid disorder
     Route: 065
  270. AMITRIPTYLINE HYDROCHLORIDE [Suspect]
     Active Substance: AMITRIPTYLINE HYDROCHLORIDE
     Indication: Radioactive iodine therapy
     Route: 065
  271. AMITRIPTYLINE HYDROCHLORIDE [Suspect]
     Active Substance: AMITRIPTYLINE HYDROCHLORIDE
     Indication: Prophylaxis
     Route: 065
  272. AMITRIPTYLINE HYDROCHLORIDE [Suspect]
     Active Substance: AMITRIPTYLINE HYDROCHLORIDE
     Indication: Hypertension
     Route: 065
  273. AMITRIPTYLINE HYDROCHLORIDE [Suspect]
     Active Substance: AMITRIPTYLINE HYDROCHLORIDE
     Indication: Dementia
     Route: 065
  274. AMITRIPTYLINE HYDROCHLORIDE [Suspect]
     Active Substance: AMITRIPTYLINE HYDROCHLORIDE
     Indication: Constipation
     Route: 065
  275. AMITRIPTYLINE HYDROCHLORIDE [Suspect]
     Active Substance: AMITRIPTYLINE HYDROCHLORIDE
     Indication: Chest pain
     Route: 065
  276. AMITRIPTYLINE HYDROCHLORIDE [Suspect]
     Active Substance: AMITRIPTYLINE HYDROCHLORIDE
     Indication: Arthritis
     Route: 065
  277. AMITRIPTYLINE HYDROCHLORIDE [Suspect]
     Active Substance: AMITRIPTYLINE HYDROCHLORIDE
     Indication: Prophylaxis
     Route: 065
  278. AMITRIPTYLINE HYDROCHLORIDE [Suspect]
     Active Substance: AMITRIPTYLINE HYDROCHLORIDE
     Indication: Oedema
     Route: 065
  279. AMITRIPTYLINE HYDROCHLORIDE [Suspect]
     Active Substance: AMITRIPTYLINE HYDROCHLORIDE
     Indication: Hypertension
     Route: 065
  280. AMITRIPTYLINE HYDROCHLORIDE [Suspect]
     Active Substance: AMITRIPTYLINE HYDROCHLORIDE
     Indication: Duodenal ulcer
     Route: 065
  281. AMITRIPTYLINE HYDROCHLORIDE [Suspect]
     Active Substance: AMITRIPTYLINE HYDROCHLORIDE
     Indication: Coronary artery disease
     Route: 065
  282. AMITRIPTYLINE HYDROCHLORIDE [Suspect]
     Active Substance: AMITRIPTYLINE HYDROCHLORIDE
     Indication: Chest pain
     Route: 065
  283. AMITRIPTYLINE HYDROCHLORIDE [Suspect]
     Active Substance: AMITRIPTYLINE HYDROCHLORIDE
     Indication: Fibromyalgia
     Route: 048
  284. AMITRIPTYLINE HYDROCHLORIDE [Suspect]
     Active Substance: AMITRIPTYLINE HYDROCHLORIDE
     Indication: Duodenal ulcer
     Route: 048
  285. AMITRIPTYLINE HYDROCHLORIDE [Suspect]
     Active Substance: AMITRIPTYLINE HYDROCHLORIDE
     Indication: Constipation
     Route: 048
  286. AMITRIPTYLINE HYDROCHLORIDE [Suspect]
     Active Substance: AMITRIPTYLINE HYDROCHLORIDE
     Indication: Arthritis
     Route: 048
  287. AMLODIPINE BESYLATE [Suspect]
     Active Substance: AMLODIPINE BESYLATE
     Indication: Angina pectoris
     Route: 065
  288. AMLODIPINE BESYLATE [Suspect]
     Active Substance: AMLODIPINE BESYLATE
     Indication: Hypertension
     Route: 065
  289. AMLODIPINE BESYLATE [Suspect]
     Active Substance: AMLODIPINE BESYLATE
     Indication: Coronary artery disease
     Route: 065
  290. AMLODIPINE BESYLATE [Suspect]
     Active Substance: AMLODIPINE BESYLATE
     Indication: Chest pain
     Route: 065
  291. AMLODIPINE BESYLATE [Suspect]
     Active Substance: AMLODIPINE BESYLATE
     Indication: Coronary artery disease
     Route: 065
  292. AMLODIPINE BESYLATE [Suspect]
     Active Substance: AMLODIPINE BESYLATE
     Indication: Angina pectoris
     Route: 065
  293. AMLODIPINE MESYLATE [Suspect]
     Active Substance: AMLODIPINE MESYLATE
     Indication: Chest pain
     Route: 065
  294. AMITRIPTYLINE HYDROCHLORIDE [Suspect]
     Active Substance: AMITRIPTYLINE HYDROCHLORIDE
     Indication: Insomnia
     Route: 065
  295. CARBAMAZEPINE [Suspect]
     Active Substance: CARBAMAZEPINE
     Indication: Fibromyalgia
     Route: 065
  296. CARBAMAZEPINE [Suspect]
     Active Substance: CARBAMAZEPINE
     Indication: Fibromyalgia
     Route: 065
  297. CYCLOBENZAPRINE [Suspect]
     Active Substance: CYCLOBENZAPRINE
     Indication: Fibromyalgia
     Route: 065
  298. DILTIAZEM HYDROCHLORIDE [Suspect]
     Active Substance: DILTIAZEM HYDROCHLORIDE
     Indication: Chest pain
     Route: 065
  299. DILTIAZEM HYDROCHLORIDE [Suspect]
     Active Substance: DILTIAZEM HYDROCHLORIDE
     Indication: Hypertension
     Route: 065
  300. DILTIAZEM HYDROCHLORIDE [Suspect]
     Active Substance: DILTIAZEM HYDROCHLORIDE
     Indication: Coronary artery disease
     Route: 065
  301. DILTIAZEM HYDROCHLORIDE [Suspect]
     Active Substance: DILTIAZEM HYDROCHLORIDE
     Indication: Hypertension
     Route: 065
  302. ASPIRIN [Suspect]
     Active Substance: ASPIRIN
     Indication: Coronary artery disease
     Route: 065
  303. ASPIRIN [Suspect]
     Active Substance: ASPIRIN
     Indication: Angina pectoris
     Route: 065
  304. CARBAMAZEPINE [Suspect]
     Active Substance: CARBAMAZEPINE
     Indication: Seizure
     Route: 065
  305. CARBAMAZEPINE [Suspect]
     Active Substance: CARBAMAZEPINE
     Indication: Fibromyalgia
     Route: 065
  306. CARBAMAZEPINE [Suspect]
     Active Substance: CARBAMAZEPINE
     Indication: Seizure
     Route: 065
  307. CARBAMAZEPINE [Suspect]
     Active Substance: CARBAMAZEPINE
     Indication: Seizure
     Route: 065
  308. CARBAMAZEPINE [Suspect]
     Active Substance: CARBAMAZEPINE
     Indication: Fibromyalgia
     Route: 065
  309. CARBAMAZEPINE [Suspect]
     Active Substance: CARBAMAZEPINE
     Indication: Seizure prophylaxis
     Route: 065
  310. CARBAMAZEPINE [Suspect]
     Active Substance: CARBAMAZEPINE
     Indication: Seizure prophylaxis
     Route: 065
  311. CARBAMAZEPINE [Suspect]
     Active Substance: CARBAMAZEPINE
     Indication: Seizure
     Route: 065
  312. CARBAMAZEPINE [Suspect]
     Active Substance: CARBAMAZEPINE
     Indication: Fibromyalgia
     Route: 065
  313. CARBAMAZEPINE [Suspect]
     Active Substance: CARBAMAZEPINE
     Indication: Seizure prophylaxis
     Route: 065
  314. CARBAMAZEPINE [Suspect]
     Active Substance: CARBAMAZEPINE
     Indication: Seizure
     Route: 065
  315. CYCLOBENZAPRINE [Suspect]
     Active Substance: CYCLOBENZAPRINE
     Indication: Seizure
     Route: 065
  316. CYCLOBENZAPRINE [Suspect]
     Active Substance: CYCLOBENZAPRINE
     Indication: Pain
     Route: 065
  317. CYCLOBENZAPRINE [Suspect]
     Active Substance: CYCLOBENZAPRINE
     Indication: Fibromyalgia
     Route: 065
  318. CYCLOBENZAPRINE [Suspect]
     Active Substance: CYCLOBENZAPRINE
     Indication: Seizure
     Route: 065
  319. CYCLOBENZAPRINE [Suspect]
     Active Substance: CYCLOBENZAPRINE
     Indication: Pain
     Route: 065
  320. CYCLOBENZAPRINE [Suspect]
     Active Substance: CYCLOBENZAPRINE
     Indication: Seizure
     Route: 065
  321. CYCLOBENZAPRINE [Suspect]
     Active Substance: CYCLOBENZAPRINE
     Indication: Pain
     Route: 065
  322. CYCLOBENZAPRINE [Suspect]
     Active Substance: CYCLOBENZAPRINE
     Indication: Seizure prophylaxis
     Route: 065
  323. CYCLOBENZAPRINE [Suspect]
     Active Substance: CYCLOBENZAPRINE
     Indication: Seizure
     Route: 065
  324. CYCLOBENZAPRINE [Suspect]
     Active Substance: CYCLOBENZAPRINE
     Indication: Fibromyalgia
     Route: 065
  325. CYCLOBENZAPRINE [Suspect]
     Active Substance: CYCLOBENZAPRINE
     Indication: Pain
     Route: 065
  326. CYCLOBENZAPRINE [Suspect]
     Active Substance: CYCLOBENZAPRINE
     Indication: Seizure prophylaxis
     Route: 065
  327. CYCLOBENZAPRINE [Suspect]
     Active Substance: CYCLOBENZAPRINE
     Indication: Pain
     Route: 065
  328. DILTIAZEM [Suspect]
     Active Substance: DILTIAZEM
     Indication: Coronary artery disease
     Route: 065
  329. DILTIAZEM [Suspect]
     Active Substance: DILTIAZEM
     Indication: Hypertension
     Route: 065
  330. DILTIAZEM [Suspect]
     Active Substance: DILTIAZEM
     Indication: Hypertension
     Route: 065
  331. DILTIAZEM [Suspect]
     Active Substance: DILTIAZEM
     Indication: Chest pain
     Route: 065
  332. DIPYRIDAMOLE [Suspect]
     Active Substance: DIPYRIDAMOLE
     Indication: Cerebrovascular accident
     Route: 048
  333. DIPYRIDAMOLE [Suspect]
     Active Substance: DIPYRIDAMOLE
     Indication: Cerebrovascular accident
     Route: 065
  334. FUROSEMIDE [Suspect]
     Active Substance: FUROSEMIDE
     Indication: Angina pectoris
     Route: 061
  335. FUROSEMIDE [Suspect]
     Active Substance: FUROSEMIDE
     Indication: Oedema
     Route: 065
  336. FUROSEMIDE [Suspect]
     Active Substance: FUROSEMIDE
     Indication: Oedema
     Route: 065
  337. GLUCOSAMINE [Suspect]
     Active Substance: GLUCOSAMINE
     Indication: Arthritis
     Route: 065
  338. GLUCOSAMINE [Suspect]
     Active Substance: GLUCOSAMINE
     Indication: Pain
     Route: 065
  339. NITROGLYCERIN [Suspect]
     Active Substance: NITROGLYCERIN
     Indication: Coronary artery disease
     Route: 065
  340. NITROGLYCERIN [Suspect]
     Active Substance: NITROGLYCERIN
     Indication: Coronary artery disease
     Route: 061
  341. NITROGLYCERIN [Suspect]
     Active Substance: NITROGLYCERIN
     Indication: Chest pain
     Route: 061
  342. NITROGLYCERIN [Suspect]
     Active Substance: NITROGLYCERIN
     Indication: Hypertension
     Route: 065
  343. NITROGLYCERIN [Suspect]
     Active Substance: NITROGLYCERIN
     Indication: Chest pain
     Route: 065
  344. LEVOTHYROXINE SODIUM [Suspect]
     Active Substance: LEVOTHYROXINE SODIUM
     Indication: Radioactive iodine therapy
     Route: 065
  345. LEVOTHYROXINE SODIUM [Suspect]
     Active Substance: LEVOTHYROXINE SODIUM
     Indication: Thyroid disorder
     Route: 065
  346. MAGNESIUM HYDROXIDE [Suspect]
     Active Substance: MAGNESIUM HYDROXIDE
     Indication: Constipation
     Route: 065
  347. MAGNESIUM HYDROXIDE [Suspect]
     Active Substance: MAGNESIUM HYDROXIDE
     Indication: Constipation
     Route: 065
  348. MAGNESIUM HYDROXIDE [Suspect]
     Active Substance: MAGNESIUM HYDROXIDE
     Indication: Constipation
     Route: 065
  349. MAGNESIUM HYDROXIDE [Suspect]
     Active Substance: MAGNESIUM HYDROXIDE
     Indication: Constipation
     Route: 065
  350. MORPHINE SULFATE [Suspect]
     Active Substance: MORPHINE SULFATE
     Indication: Pain
     Dosage: LIQUID
     Route: 065
  351. MORPHINE SULFATE [Suspect]
     Active Substance: MORPHINE SULFATE
     Indication: Pain
     Route: 065
  352. MORPHINE SULFATE [Suspect]
     Active Substance: MORPHINE SULFATE
     Indication: Pain
     Dosage: LIQUID
     Route: 065
  353. MORPHINE SULFATE [Suspect]
     Active Substance: MORPHINE SULFATE
     Indication: Pain
     Dosage: LIQUID
     Route: 065
  354. OMEPRAZOLE [Suspect]
     Active Substance: OMEPRAZOLE
     Indication: Angina pectoris
     Route: 048
  355. OMEPRAZOLE [Suspect]
     Active Substance: OMEPRAZOLE
     Indication: Small intestine carcinoma
     Route: 048
  356. OMEPRAZOLE [Suspect]
     Active Substance: OMEPRAZOLE
     Indication: Hypertension
     Route: 048
  357. OXAZEPAM [Suspect]
     Active Substance: OXAZEPAM
     Indication: Angina pectoris
     Route: 048
  358. OXAZEPAM [Suspect]
     Active Substance: OXAZEPAM
     Indication: Insomnia
     Route: 048
  359. OXAZEPAM [Suspect]
     Active Substance: OXAZEPAM
     Indication: Insomnia
     Route: 065
  360. OXAZEPAM [Suspect]
     Active Substance: OXAZEPAM
     Indication: Coronary artery disease
     Route: 065
  361. OXAZEPAM [Suspect]
     Active Substance: OXAZEPAM
     Indication: Angina pectoris
     Route: 065
  362. PERSANTINE [Suspect]
     Active Substance: DIPYRIDAMOLE
     Indication: Cerebrovascular accident
     Route: 065
  363. QUINAPRIL HYDROCHLORIDE [Suspect]
     Active Substance: QUINAPRIL HYDROCHLORIDE
     Indication: Chest pain
     Route: 065
  364. ROSUVASTATIN CALCIUM [Suspect]
     Active Substance: ROSUVASTATIN CALCIUM
     Indication: Hypertension
     Route: 065
  365. ROSUVASTATIN CALCIUM [Suspect]
     Active Substance: ROSUVASTATIN CALCIUM
     Indication: Chronic obstructive pulmonary disease
     Route: 065
  366. ROSUVASTATIN CALCIUM [Suspect]
     Active Substance: ROSUVASTATIN CALCIUM
     Indication: Coronary artery disease
     Route: 048
  367. ROSUVASTATIN CALCIUM [Suspect]
     Active Substance: ROSUVASTATIN CALCIUM
     Indication: Cerebrovascular accident
     Route: 065
  368. ALBUTEROL [Suspect]
     Active Substance: ALBUTEROL
     Indication: Angina pectoris
     Route: 065
  369. ALBUTEROL [Suspect]
     Active Substance: ALBUTEROL
     Indication: Chest pain
     Route: 065
  370. ALBUTEROL [Suspect]
     Active Substance: ALBUTEROL
     Indication: Angina pectoris
     Route: 065
  371. ALBUTEROL [Suspect]
     Active Substance: ALBUTEROL
     Indication: Coronary artery disease
     Route: 065
  372. ALBUTEROL [Suspect]
     Active Substance: ALBUTEROL
     Indication: Chest pain
     Route: 065
  373. ALBUTEROL [Suspect]
     Active Substance: ALBUTEROL
     Indication: Angina pectoris
     Route: 065
  374. TIOTROPIUM BROMIDE [Suspect]
     Active Substance: TIOTROPIUM BROMIDE
     Indication: Product used for unknown indication
     Route: 065
  375. CRANBERRY [Suspect]
     Active Substance: CRANBERRY
     Indication: Bladder disorder
     Route: 065
  376. ACETAMINOPHEN [Concomitant]
     Active Substance: ACETAMINOPHEN
     Indication: Fibromyalgia
     Route: 065
  377. AMITRIPTYLINE [Suspect]
     Active Substance: AMITRIPTYLINE
     Indication: Prophylaxis
     Route: 065
  378. AMITRIPTYLINE [Suspect]
     Active Substance: AMITRIPTYLINE
     Indication: Oedema
     Route: 065
  379. AMITRIPTYLINE [Suspect]
     Active Substance: AMITRIPTYLINE
     Indication: Chest pain
     Route: 065
  380. AMITRIPTYLINE [Suspect]
     Active Substance: AMITRIPTYLINE
     Indication: Radioactive iodine therapy
     Route: 065
  381. AMITRIPTYLINE [Suspect]
     Active Substance: AMITRIPTYLINE
     Indication: Prophylaxis
     Route: 065
  382. AMITRIPTYLINE [Suspect]
     Active Substance: AMITRIPTYLINE
     Indication: Oedema
     Route: 065
  383. AMITRIPTYLINE [Suspect]
     Active Substance: AMITRIPTYLINE
     Indication: Hypertension
     Route: 065
  384. AMITRIPTYLINE [Suspect]
     Active Substance: AMITRIPTYLINE
     Indication: Constipation
     Route: 065
  385. AMITRIPTYLINE [Suspect]
     Active Substance: AMITRIPTYLINE
     Indication: Dementia
     Route: 065
  386. AMITRIPTYLINE [Suspect]
     Active Substance: AMITRIPTYLINE
     Indication: Chest pain
     Route: 065
  387. AMITRIPTYLINE [Suspect]
     Active Substance: AMITRIPTYLINE
     Indication: Thyroid disorder
     Route: 048
  388. AMITRIPTYLINE [Suspect]
     Active Substance: AMITRIPTYLINE
     Indication: Prophylaxis
     Route: 048
  389. AMITRIPTYLINE [Suspect]
     Active Substance: AMITRIPTYLINE
     Indication: Oedema
     Route: 048
  390. AMITRIPTYLINE [Suspect]
     Active Substance: AMITRIPTYLINE
     Indication: Duodenal ulcer
     Route: 048
  391. AMITRIPTYLINE [Suspect]
     Active Substance: AMITRIPTYLINE
     Indication: Constipation
     Route: 048
  392. AMITRIPTYLINE [Suspect]
     Active Substance: AMITRIPTYLINE
     Indication: Arthritis
     Route: 048
  393. BISACODYL [Suspect]
     Active Substance: BISACODYL
     Indication: Constipation
     Route: 065
  394. ACEBUTOLOL HYDROCHLORIDE [Suspect]
     Active Substance: ACEBUTOLOL HYDROCHLORIDE
     Indication: Chest pain
     Route: 065
  395. ACEBUTOLOL HYDROCHLORIDE [Suspect]
     Active Substance: ACEBUTOLOL HYDROCHLORIDE
     Indication: Product used for unknown indication
     Route: 065
  396. ACEBUTOLOL HYDROCHLORIDE [Suspect]
     Active Substance: ACEBUTOLOL HYDROCHLORIDE
     Indication: Hypertension
     Route: 065
  397. ACEBUTOLOL HYDROCHLORIDE [Suspect]
     Active Substance: ACEBUTOLOL HYDROCHLORIDE
     Indication: Constipation
     Route: 065
  398. ACEBUTOLOL HYDROCHLORIDE [Suspect]
     Active Substance: ACEBUTOLOL HYDROCHLORIDE
     Indication: Product used for unknown indication
     Route: 065
  399. ACEBUTOLOL HYDROCHLORIDE [Suspect]
     Active Substance: ACEBUTOLOL HYDROCHLORIDE
     Indication: Chest pain
     Route: 065
  400. ACEBUTOLOL HYDROCHLORIDE [Suspect]
     Active Substance: ACEBUTOLOL HYDROCHLORIDE
     Indication: Angina pectoris
     Route: 065
  401. DILTIAZEM HYDROCHLORIDE [Suspect]
     Active Substance: DILTIAZEM HYDROCHLORIDE
     Indication: Product used for unknown indication
     Route: 065
  402. DILTIAZEM HYDROCHLORIDE [Suspect]
     Active Substance: DILTIAZEM HYDROCHLORIDE
     Indication: Hypertension
     Route: 065
  403. DILTIAZEM HYDROCHLORIDE [Suspect]
     Active Substance: DILTIAZEM HYDROCHLORIDE
     Indication: Angina pectoris
     Route: 065
  404. DILTIAZEM HYDROCHLORIDE [Suspect]
     Active Substance: DILTIAZEM HYDROCHLORIDE
     Indication: Hypertension
     Route: 065
  405. DILTIAZEM HYDROCHLORIDE [Suspect]
     Active Substance: DILTIAZEM HYDROCHLORIDE
     Indication: Coronary artery disease
     Route: 065
  406. DILTIAZEM HYDROCHLORIDE [Suspect]
     Active Substance: DILTIAZEM HYDROCHLORIDE
     Indication: Angina pectoris
     Route: 065
  407. DILTIAZEM HYDROCHLORIDE [Suspect]
     Active Substance: DILTIAZEM HYDROCHLORIDE
     Indication: Hypertension
     Route: 065
  408. NITROGLYCERIN [Suspect]
     Active Substance: NITROGLYCERIN
     Indication: Coronary artery disease
     Route: 061
  409. NITROGLYCERIN [Suspect]
     Active Substance: NITROGLYCERIN
     Indication: Angina pectoris
     Route: 061
  410. NITROGLYCERIN [Suspect]
     Active Substance: NITROGLYCERIN
     Indication: Angina pectoris
     Route: 065
  411. NITROGLYCERIN [Suspect]
     Active Substance: NITROGLYCERIN
     Indication: Chest pain
     Route: 065
  412. NITROGLYCERIN [Suspect]
     Active Substance: NITROGLYCERIN
     Indication: Angina pectoris
     Route: 065
  413. NITROGLYCERIN [Suspect]
     Active Substance: NITROGLYCERIN
     Indication: Coronary artery disease
     Route: 065
  414. NITROGLYCERIN [Suspect]
     Active Substance: NITROGLYCERIN
     Indication: Chest pain
     Route: 065
  415. NITROGLYCERIN [Suspect]
     Active Substance: NITROGLYCERIN
     Indication: Angina pectoris
     Route: 065
  416. NITROGLYCERIN [Suspect]
     Active Substance: NITROGLYCERIN
     Indication: Chest pain
     Route: 065
  417. NITROGLYCERIN [Suspect]
     Active Substance: NITROGLYCERIN
     Indication: Angina pectoris
     Route: 065
  418. ACEBUTOLOL HYDROCHLORIDE [Suspect]
     Active Substance: ACEBUTOLOL HYDROCHLORIDE
     Indication: Coronary artery disease
     Route: 065
  419. ACEBUTOLOL HYDROCHLORIDE [Suspect]
     Active Substance: ACEBUTOLOL HYDROCHLORIDE
     Indication: Hypertension
     Route: 065
  420. ACEBUTOLOL HYDROCHLORIDE [Suspect]
     Active Substance: ACEBUTOLOL HYDROCHLORIDE
     Indication: Angina pectoris
     Route: 065
  421. ACEBUTOLOL HYDROCHLORIDE [Suspect]
     Active Substance: ACEBUTOLOL HYDROCHLORIDE
     Indication: Coronary artery disease
     Route: 065
  422. ACEBUTOLOL HYDROCHLORIDE [Suspect]
     Active Substance: ACEBUTOLOL HYDROCHLORIDE
     Indication: Angina pectoris
     Route: 065
  423. ACEBUTOLOL HYDROCHLORIDE [Suspect]
     Active Substance: ACEBUTOLOL HYDROCHLORIDE
     Indication: Hypertension
     Route: 065
  424. ACEBUTOLOL HYDROCHLORIDE [Suspect]
     Active Substance: ACEBUTOLOL HYDROCHLORIDE
     Indication: Hypertension
     Route: 065
  425. ACEBUTOLOL HYDROCHLORIDE [Suspect]
     Active Substance: ACEBUTOLOL HYDROCHLORIDE
     Indication: Hypertension
     Route: 065
  426. ACEBUTOLOL HYDROCHLORIDE [Suspect]
     Active Substance: ACEBUTOLOL HYDROCHLORIDE
     Indication: Angina pectoris
     Route: 065
  427. ACETAMINOPHEN\CAFFEINE [Suspect]
     Active Substance: ACETAMINOPHEN\CAFFEINE
     Indication: Chronic obstructive pulmonary disease
     Route: 065
  428. ACETAMINOPHEN\CAFFEINE [Suspect]
     Active Substance: ACETAMINOPHEN\CAFFEINE
     Indication: Coronary artery disease
     Route: 065
  429. ACETAMINOPHEN\CAFFEINE [Suspect]
     Active Substance: ACETAMINOPHEN\CAFFEINE
     Indication: Angina pectoris
     Route: 065
  430. ACETAMINOPHEN\CAFFEINE [Suspect]
     Active Substance: ACETAMINOPHEN\CAFFEINE
     Indication: Chronic obstructive pulmonary disease
     Route: 065
  431. ACETAMINOPHEN\CAFFEINE [Suspect]
     Active Substance: ACETAMINOPHEN\CAFFEINE
     Indication: Cerebrovascular accident
     Route: 065
  432. ACETAMINOPHEN\CAFFEINE [Suspect]
     Active Substance: ACETAMINOPHEN\CAFFEINE
     Indication: Angina pectoris
     Route: 065
  433. ASPIRIN [Suspect]
     Active Substance: ASPIRIN
     Indication: Hypertension
     Route: 065
  434. AGGRENOX [Suspect]
     Active Substance: ASPIRIN\DIPYRIDAMOLE
     Indication: Cerebrovascular accident
     Route: 065
  435. AMITRIPTYLINE HYDROCHLORIDE [Suspect]
     Active Substance: AMITRIPTYLINE HYDROCHLORIDE
     Indication: Oedema
     Route: 065
  436. AMITRIPTYLINE HYDROCHLORIDE [Suspect]
     Active Substance: AMITRIPTYLINE HYDROCHLORIDE
     Indication: Duodenal ulcer
     Route: 065
  437. AMITRIPTYLINE HYDROCHLORIDE [Suspect]
     Active Substance: AMITRIPTYLINE HYDROCHLORIDE
     Indication: Dementia
     Route: 065
  438. AMITRIPTYLINE HYDROCHLORIDE [Suspect]
     Active Substance: AMITRIPTYLINE HYDROCHLORIDE
     Indication: Constipation
     Route: 065
  439. AMITRIPTYLINE HYDROCHLORIDE [Suspect]
     Active Substance: AMITRIPTYLINE HYDROCHLORIDE
     Indication: Constipation
     Route: 065
  440. AMITRIPTYLINE HYDROCHLORIDE [Suspect]
     Active Substance: AMITRIPTYLINE HYDROCHLORIDE
     Indication: Chest pain
     Route: 065
  441. AMITRIPTYLINE HYDROCHLORIDE [Suspect]
     Active Substance: AMITRIPTYLINE HYDROCHLORIDE
     Indication: Radioactive iodine therapy
     Route: 065
  442. AMITRIPTYLINE HYDROCHLORIDE [Suspect]
     Active Substance: AMITRIPTYLINE HYDROCHLORIDE
     Indication: Prophylaxis against bronchospasm
     Route: 065
  443. AMITRIPTYLINE HYDROCHLORIDE [Suspect]
     Active Substance: AMITRIPTYLINE HYDROCHLORIDE
     Indication: Insomnia
     Route: 065
  444. AMITRIPTYLINE HYDROCHLORIDE [Suspect]
     Active Substance: AMITRIPTYLINE HYDROCHLORIDE
     Indication: Coronary artery disease
     Route: 065
  445. AMITRIPTYLINE HYDROCHLORIDE [Suspect]
     Active Substance: AMITRIPTYLINE HYDROCHLORIDE
     Indication: Fibromyalgia
     Route: 065
  446. AMITRIPTYLINE HYDROCHLORIDE [Suspect]
     Active Substance: AMITRIPTYLINE HYDROCHLORIDE
     Indication: Duodenal ulcer
     Route: 065
  447. AMITRIPTYLINE HYDROCHLORIDE [Suspect]
     Active Substance: AMITRIPTYLINE HYDROCHLORIDE
     Indication: Angina pectoris
     Route: 065
  448. AMITRIPTYLINE HYDROCHLORIDE [Suspect]
     Active Substance: AMITRIPTYLINE HYDROCHLORIDE
     Indication: Thyroid disorder
     Route: 065
  449. AMITRIPTYLINE HYDROCHLORIDE [Suspect]
     Active Substance: AMITRIPTYLINE HYDROCHLORIDE
     Indication: Pain
     Route: 065
  450. AMITRIPTYLINE HYDROCHLORIDE [Suspect]
     Active Substance: AMITRIPTYLINE HYDROCHLORIDE
     Indication: Dementia
     Route: 065
  451. AMITRIPTYLINE HYDROCHLORIDE [Suspect]
     Active Substance: AMITRIPTYLINE HYDROCHLORIDE
     Indication: Arthritis
     Route: 065
  452. AMITRIPTYLINE HYDROCHLORIDE [Suspect]
     Active Substance: AMITRIPTYLINE HYDROCHLORIDE
     Indication: Radioactive iodine therapy
     Route: 048
  453. AMITRIPTYLINE HYDROCHLORIDE [Suspect]
     Active Substance: AMITRIPTYLINE HYDROCHLORIDE
     Indication: Prophylaxis
     Route: 048
  454. AMITRIPTYLINE HYDROCHLORIDE [Suspect]
     Active Substance: AMITRIPTYLINE HYDROCHLORIDE
     Indication: Pain
     Route: 048
  455. AMITRIPTYLINE HYDROCHLORIDE [Suspect]
     Active Substance: AMITRIPTYLINE HYDROCHLORIDE
     Indication: Oedema
     Route: 048
  456. AMITRIPTYLINE HYDROCHLORIDE [Suspect]
     Active Substance: AMITRIPTYLINE HYDROCHLORIDE
     Indication: Hypertension
     Route: 048
  457. AMITRIPTYLINE HYDROCHLORIDE [Suspect]
     Active Substance: AMITRIPTYLINE HYDROCHLORIDE
     Indication: Dementia
     Route: 048
  458. AMITRIPTYLINE HYDROCHLORIDE [Suspect]
     Active Substance: AMITRIPTYLINE HYDROCHLORIDE
     Indication: Coronary artery disease
     Route: 048
  459. AMITRIPTYLINE HYDROCHLORIDE [Suspect]
     Active Substance: AMITRIPTYLINE HYDROCHLORIDE
     Indication: Chest pain
     Route: 048
  460. AMLODIPINE BESYLATE [Suspect]
     Active Substance: AMLODIPINE BESYLATE
     Indication: Coronary artery disease
     Route: 065
  461. AMLODIPINE BESYLATE [Suspect]
     Active Substance: AMLODIPINE BESYLATE
     Indication: Hypertension
     Route: 065
  462. AMLODIPINE BESYLATE [Suspect]
     Active Substance: AMLODIPINE BESYLATE
     Indication: Hypertension
     Route: 065
  463. DILTIAZEM HYDROCHLORIDE [Suspect]
     Active Substance: DILTIAZEM HYDROCHLORIDE
     Indication: Coronary artery disease
     Route: 065
  464. DILTIAZEM HYDROCHLORIDE [Suspect]
     Active Substance: DILTIAZEM HYDROCHLORIDE
     Indication: Chest pain
     Route: 065
  465. DILTIAZEM HYDROCHLORIDE [Suspect]
     Active Substance: DILTIAZEM HYDROCHLORIDE
     Indication: Chest pain
     Route: 065
  466. ASPIRIN [Suspect]
     Active Substance: ASPIRIN
     Indication: Angina pectoris
     Route: 065
  467. CARBAMAZEPINE [Suspect]
     Active Substance: CARBAMAZEPINE
     Indication: Seizure prophylaxis
     Route: 065
  468. CARBAMAZEPINE [Suspect]
     Active Substance: CARBAMAZEPINE
     Indication: Seizure prophylaxis
     Route: 065
  469. CARBAMAZEPINE [Suspect]
     Active Substance: CARBAMAZEPINE
     Indication: Seizure prophylaxis
     Route: 065
  470. CARBAMAZEPINE [Suspect]
     Active Substance: CARBAMAZEPINE
     Indication: Fibromyalgia
     Route: 065
  471. CARBAMAZEPINE [Suspect]
     Active Substance: CARBAMAZEPINE
     Indication: Fibromyalgia
     Route: 065
  472. CARBAMAZEPINE [Suspect]
     Active Substance: CARBAMAZEPINE
     Indication: Seizure prophylaxis
     Route: 065
  473. CARBAMAZEPINE [Suspect]
     Active Substance: CARBAMAZEPINE
     Indication: Seizure
     Route: 065
  474. CYCLOBENZAPRINE [Suspect]
     Active Substance: CYCLOBENZAPRINE
     Indication: Fibromyalgia
     Route: 065
  475. CYCLOBENZAPRINE [Suspect]
     Active Substance: CYCLOBENZAPRINE
     Indication: Fibromyalgia
     Route: 065
  476. CYCLOBENZAPRINE [Suspect]
     Active Substance: CYCLOBENZAPRINE
     Indication: Seizure prophylaxis
     Route: 065
  477. CYCLOBENZAPRINE [Suspect]
     Active Substance: CYCLOBENZAPRINE
     Indication: Seizure
     Route: 065
  478. CYCLOBENZAPRINE [Suspect]
     Active Substance: CYCLOBENZAPRINE
     Indication: Fibromyalgia
     Route: 065
  479. CYCLOBENZAPRINE [Suspect]
     Active Substance: CYCLOBENZAPRINE
     Indication: Seizure
     Route: 065
  480. CYCLOBENZAPRINE [Suspect]
     Active Substance: CYCLOBENZAPRINE
     Indication: Pain
     Route: 065
  481. CYCLOBENZAPRINE [Suspect]
     Active Substance: CYCLOBENZAPRINE
     Indication: Seizure prophylaxis
     Route: 065
  482. CYCLOBENZAPRINE [Suspect]
     Active Substance: CYCLOBENZAPRINE
     Indication: Seizure
     Route: 065
  483. CYCLOBENZAPRINE [Suspect]
     Active Substance: CYCLOBENZAPRINE
     Indication: Fibromyalgia
     Route: 065
  484. CYCLOBENZAPRINE [Suspect]
     Active Substance: CYCLOBENZAPRINE
     Indication: Seizure
     Route: 065
  485. CYCLOBENZAPRINE [Suspect]
     Active Substance: CYCLOBENZAPRINE
     Indication: Fibromyalgia
     Route: 065
  486. CYCLOBENZAPRINE [Suspect]
     Active Substance: CYCLOBENZAPRINE
     Indication: Fibromyalgia
     Route: 065
  487. CYCLOBENZAPRINE HYDROCHLORIDE [Suspect]
     Active Substance: CYCLOBENZAPRINE HYDROCHLORIDE
     Indication: Fibromyalgia
     Route: 065
  488. DILTIAZEM [Suspect]
     Active Substance: DILTIAZEM
     Indication: Angina pectoris
     Route: 065
  489. DILTIAZEM [Suspect]
     Active Substance: DILTIAZEM
     Indication: Angina pectoris
     Route: 065
  490. DILTIAZEM [Suspect]
     Active Substance: DILTIAZEM
     Indication: Coronary artery disease
     Route: 065
  491. DILTIAZEM [Suspect]
     Active Substance: DILTIAZEM
     Indication: Hypertension
     Route: 065
  492. DILTIAZEM [Suspect]
     Active Substance: DILTIAZEM
     Indication: Coronary artery disease
     Route: 065
  493. DILTIAZEM [Suspect]
     Active Substance: DILTIAZEM
     Indication: Angina pectoris
     Route: 065
  494. DILTIAZEM [Suspect]
     Active Substance: DILTIAZEM
     Indication: Angina pectoris
     Route: 065
  495. DIPYRIDAMOLE [Suspect]
     Active Substance: DIPYRIDAMOLE
     Indication: Cerebrovascular accident
     Route: 065
  496. DIPYRIDAMOLE [Suspect]
     Active Substance: DIPYRIDAMOLE
     Indication: Cerebrovascular accident
     Route: 065
  497. FUROSEMIDE [Suspect]
     Active Substance: FUROSEMIDE
     Indication: Angina pectoris
     Route: 065
  498. FUROSEMIDE [Suspect]
     Active Substance: FUROSEMIDE
     Indication: Angina pectoris
     Route: 065
  499. FUROSEMIDE [Suspect]
     Active Substance: FUROSEMIDE
     Indication: Oedema
     Route: 065
  500. FUROSEMIDE [Suspect]
     Active Substance: FUROSEMIDE
     Indication: Angina pectoris
     Route: 065
  501. GLUCOSAMINE [Suspect]
     Active Substance: GLUCOSAMINE
     Indication: Pain
     Route: 065
  502. NITROGLYCERIN [Suspect]
     Active Substance: NITROGLYCERIN
     Indication: Chest pain
     Route: 065
  503. NITROGLYCERIN [Suspect]
     Active Substance: NITROGLYCERIN
     Indication: Angina pectoris
     Route: 065
  504. NITROGLYCERIN [Suspect]
     Active Substance: NITROGLYCERIN
     Indication: Hypertension
     Route: 061
  505. NITROGLYCERIN [Suspect]
     Active Substance: NITROGLYCERIN
     Indication: Angina pectoris
     Route: 065
  506. NITROGLYCERIN [Suspect]
     Active Substance: NITROGLYCERIN
     Indication: Chest pain
     Route: 065
  507. NITROGLYCERIN [Suspect]
     Active Substance: NITROGLYCERIN
     Indication: Angina pectoris
     Route: 065
  508. LEVOTHYROXINE SODIUM [Suspect]
     Active Substance: LEVOTHYROXINE SODIUM
     Indication: Radioactive iodine therapy
     Route: 065
  509. LEVOTHYROXINE SODIUM [Suspect]
     Active Substance: LEVOTHYROXINE SODIUM
     Indication: Radioactive iodine therapy
     Route: 065
  510. MORPHINE SULFATE [Suspect]
     Active Substance: MORPHINE SULFATE
     Indication: Pain
     Dosage: LIQUID
     Route: 065
  511. MORPHINE SULFATE [Suspect]
     Active Substance: MORPHINE SULFATE
     Indication: Fibromyalgia
     Route: 065
  512. OMEPRAZOLE [Suspect]
     Active Substance: OMEPRAZOLE
     Indication: Duodenal ulcer
     Route: 048
  513. OMEPRAZOLE [Suspect]
     Active Substance: OMEPRAZOLE
     Indication: Coronary artery disease
     Route: 048
  514. OMEPRAZOLE [Suspect]
     Active Substance: OMEPRAZOLE
     Indication: Angina pectoris
     Route: 048
  515. OXAZEPAM [Suspect]
     Active Substance: OXAZEPAM
     Indication: Hypertension
     Route: 048
  516. OXAZEPAM [Suspect]
     Active Substance: OXAZEPAM
     Indication: Hypertension
     Route: 065
  517. OXAZEPAM [Suspect]
     Active Substance: OXAZEPAM
     Indication: Insomnia
     Route: 065
  518. OXAZEPAM [Suspect]
     Active Substance: OXAZEPAM
     Indication: Insomnia
     Route: 048
  519. QUINAPRIL HYDROCHLORIDE [Suspect]
     Active Substance: QUINAPRIL HYDROCHLORIDE
     Indication: Coronary artery disease
     Route: 065
  520. QUINAPRIL HYDROCHLORIDE [Suspect]
     Active Substance: QUINAPRIL HYDROCHLORIDE
     Indication: Chest pain
     Route: 065
  521. QUINAPRIL HYDROCHLORIDE [Suspect]
     Active Substance: QUINAPRIL HYDROCHLORIDE
     Indication: Angina pectoris
     Route: 065
  522. QUINAPRIL HYDROCHLORIDE [Suspect]
     Active Substance: QUINAPRIL HYDROCHLORIDE
     Indication: Hypertension
     Route: 065
  523. ROSUVASTATIN CALCIUM [Suspect]
     Active Substance: ROSUVASTATIN CALCIUM
     Indication: Insomnia
     Route: 065
  524. ROSUVASTATIN CALCIUM [Suspect]
     Active Substance: ROSUVASTATIN CALCIUM
     Indication: Cerebrovascular accident
     Route: 065
  525. ROSUVASTATIN CALCIUM [Suspect]
     Active Substance: ROSUVASTATIN CALCIUM
     Indication: Hypertension
     Route: 048
  526. ROSUVASTATIN CALCIUM [Suspect]
     Active Substance: ROSUVASTATIN CALCIUM
     Indication: Chronic obstructive pulmonary disease
     Route: 048
  527. ROSUVASTATIN CALCIUM [Suspect]
     Active Substance: ROSUVASTATIN CALCIUM
     Indication: Cerebrovascular accident
     Route: 048
  528. ROSUVASTATIN CALCIUM [Suspect]
     Active Substance: ROSUVASTATIN CALCIUM
     Indication: Angina pectoris
     Route: 048
  529. ROSUVASTATIN CALCIUM [Suspect]
     Active Substance: ROSUVASTATIN CALCIUM
     Indication: Coronary artery disease
     Route: 048
  530. ROSUVASTATIN CALCIUM [Suspect]
     Active Substance: ROSUVASTATIN CALCIUM
     Indication: Cerebrovascular accident
     Route: 048
  531. ROSUVASTATIN CALCIUM [Suspect]
     Active Substance: ROSUVASTATIN CALCIUM
     Indication: Insomnia
     Route: 048
  532. ROSUVASTATIN CALCIUM [Suspect]
     Active Substance: ROSUVASTATIN CALCIUM
     Indication: Coronary artery disease
     Route: 065
  533. ROSUVASTATIN CALCIUM [Suspect]
     Active Substance: ROSUVASTATIN CALCIUM
     Indication: Chronic obstructive pulmonary disease
     Route: 065
  534. ALBUTEROL [Suspect]
     Active Substance: ALBUTEROL
     Indication: Coronary artery disease
     Route: 065
  535. ALBUTEROL [Suspect]
     Active Substance: ALBUTEROL
     Indication: Chest pain
     Route: 065
  536. ALBUTEROL [Suspect]
     Active Substance: ALBUTEROL
     Indication: Coronary artery disease
     Route: 065
  537. ALBUTEROL [Suspect]
     Active Substance: ALBUTEROL
     Indication: Coronary artery disease
     Route: 065
  538. ALBUTEROL [Suspect]
     Active Substance: ALBUTEROL
     Indication: Chest pain
     Route: 065
  539. ALBUTEROL [Suspect]
     Active Substance: ALBUTEROL
     Indication: Coronary artery disease
     Route: 065
  540. SPIRIVA [Suspect]
     Active Substance: TIOTROPIUM BROMIDE MONOHYDRATE
     Indication: Chronic obstructive pulmonary disease
     Route: 065
  541. TIOTROPIUM BROMIDE [Suspect]
     Active Substance: TIOTROPIUM BROMIDE
     Indication: Chronic obstructive pulmonary disease
     Route: 065
  542. TIOTROPIUM BROMIDE [Suspect]
     Active Substance: TIOTROPIUM BROMIDE
     Indication: Chronic obstructive pulmonary disease
     Route: 065
  543. TIOTROPIUM BROMIDE [Suspect]
     Active Substance: TIOTROPIUM BROMIDE
     Indication: Product used for unknown indication
     Route: 065
  544. ACETAMINOPHEN [Concomitant]
     Active Substance: ACETAMINOPHEN
     Indication: Fibromyalgia
     Route: 065
  545. ACETAMINOPHEN [Concomitant]
     Active Substance: ACETAMINOPHEN
     Indication: Fibromyalgia
     Route: 065
  546. ACETAMINOPHEN [Concomitant]
     Active Substance: ACETAMINOPHEN
     Indication: Pain
     Route: 065
  547. CRANBERRY [Concomitant]
     Active Substance: CRANBERRY
     Indication: Bladder disorder
     Route: 065
  548. AMITRIPTYLINE [Suspect]
     Active Substance: AMITRIPTYLINE
     Indication: Hypertension
     Route: 065
  549. AMITRIPTYLINE [Suspect]
     Active Substance: AMITRIPTYLINE
     Indication: Coronary artery disease
     Route: 065
  550. AMITRIPTYLINE [Suspect]
     Active Substance: AMITRIPTYLINE
     Indication: Chest pain
     Route: 065
  551. AMITRIPTYLINE [Suspect]
     Active Substance: AMITRIPTYLINE
     Indication: Angina pectoris
     Route: 065
  552. AMITRIPTYLINE [Suspect]
     Active Substance: AMITRIPTYLINE
     Indication: Fibromyalgia
     Route: 065
  553. AMITRIPTYLINE [Suspect]
     Active Substance: AMITRIPTYLINE
     Indication: Duodenal ulcer
     Route: 065
  554. AMITRIPTYLINE [Suspect]
     Active Substance: AMITRIPTYLINE
     Indication: Coronary artery disease
     Route: 065
  555. BISACODYL [Suspect]
     Active Substance: BISACODYL
     Indication: Constipation
     Route: 065
  556. ACEBUTOLOL HYDROCHLORIDE [Suspect]
     Active Substance: ACEBUTOLOL HYDROCHLORIDE
     Indication: Angina pectoris
     Route: 065
  557. ACEBUTOLOL HYDROCHLORIDE [Suspect]
     Active Substance: ACEBUTOLOL HYDROCHLORIDE
     Indication: Chest pain
     Route: 065
  558. ACEBUTOLOL HYDROCHLORIDE [Suspect]
     Active Substance: ACEBUTOLOL HYDROCHLORIDE
     Indication: Coronary artery disease
     Route: 065
  559. AGGRENOX [Suspect]
     Active Substance: ASPIRIN\DIPYRIDAMOLE
     Indication: Product used for unknown indication
     Route: 065
  560. CYCLOBENZAPRINE HYDROCHLORIDE [Suspect]
     Active Substance: CYCLOBENZAPRINE HYDROCHLORIDE
     Indication: Fibromyalgia
     Route: 065
  561. DILTIAZEM HYDROCHLORIDE [Suspect]
     Active Substance: DILTIAZEM HYDROCHLORIDE
     Indication: Coronary artery disease
     Route: 065
  562. DILTIAZEM HYDROCHLORIDE [Suspect]
     Active Substance: DILTIAZEM HYDROCHLORIDE
     Indication: Chest pain
     Route: 065
  563. DILTIAZEM HYDROCHLORIDE [Suspect]
     Active Substance: DILTIAZEM HYDROCHLORIDE
     Indication: Product used for unknown indication
     Route: 065
  564. GLUCOSAMINE [Suspect]
     Active Substance: GLUCOSAMINE
     Indication: Pain
     Route: 065
  565. NITROGLYCERIN [Suspect]
     Active Substance: NITROGLYCERIN
     Indication: Chest pain
     Route: 065
  566. NITROGLYCERIN [Suspect]
     Active Substance: NITROGLYCERIN
     Indication: Angina pectoris
     Route: 065
  567. NITROGLYCERIN [Suspect]
     Active Substance: NITROGLYCERIN
     Indication: Chest pain
     Route: 065
  568. NITROGLYCERIN [Suspect]
     Active Substance: NITROGLYCERIN
     Indication: Coronary artery disease
     Route: 065
  569. ACEBUTOLOL HYDROCHLORIDE [Suspect]
     Active Substance: ACEBUTOLOL HYDROCHLORIDE
     Indication: Coronary artery disease
     Route: 065
  570. ACEBUTOLOL HYDROCHLORIDE [Suspect]
     Active Substance: ACEBUTOLOL HYDROCHLORIDE
     Indication: Chest pain
     Route: 065
  571. ACEBUTOLOL HYDROCHLORIDE [Suspect]
     Active Substance: ACEBUTOLOL HYDROCHLORIDE
     Indication: Angina pectoris
     Route: 065
  572. ACEBUTOLOL HYDROCHLORIDE [Suspect]
     Active Substance: ACEBUTOLOL HYDROCHLORIDE
     Indication: Hypertension
     Route: 065
  573. ACEBUTOLOL HYDROCHLORIDE [Suspect]
     Active Substance: ACEBUTOLOL HYDROCHLORIDE
     Indication: Angina pectoris
     Route: 065
  574. ACEBUTOLOL HYDROCHLORIDE [Suspect]
     Active Substance: ACEBUTOLOL HYDROCHLORIDE
     Indication: Chest pain
     Route: 065
  575. ACEBUTOLOL HYDROCHLORIDE [Suspect]
     Active Substance: ACEBUTOLOL HYDROCHLORIDE
     Indication: Constipation
     Route: 065
  576. ACEBUTOLOL HYDROCHLORIDE [Suspect]
     Active Substance: ACEBUTOLOL HYDROCHLORIDE
     Indication: Chest pain
     Route: 065
  577. ACEBUTOLOL HYDROCHLORIDE [Suspect]
     Active Substance: ACEBUTOLOL HYDROCHLORIDE
     Indication: Coronary artery disease
     Route: 065
  578. ACEBUTOLOL HYDROCHLORIDE [Suspect]
     Active Substance: ACEBUTOLOL HYDROCHLORIDE
     Indication: Hypertension
     Route: 065
  579. ACEBUTOLOL HYDROCHLORIDE [Suspect]
     Active Substance: ACEBUTOLOL HYDROCHLORIDE
     Indication: Angina pectoris
     Route: 065
  580. ACEBUTOLOL HYDROCHLORIDE [Suspect]
     Active Substance: ACEBUTOLOL HYDROCHLORIDE
     Indication: Coronary artery disease
     Route: 065
  581. ACEBUTOLOL HYDROCHLORIDE [Suspect]
     Active Substance: ACEBUTOLOL HYDROCHLORIDE
     Indication: Constipation
     Route: 065
  582. ACEBUTOLOL HYDROCHLORIDE [Suspect]
     Active Substance: ACEBUTOLOL HYDROCHLORIDE
     Indication: Chest pain
     Route: 065
  583. ACEBUTOLOL HYDROCHLORIDE [Suspect]
     Active Substance: ACEBUTOLOL HYDROCHLORIDE
     Indication: Chest pain
     Route: 065
  584. ACEBUTOLOL HYDROCHLORIDE [Suspect]
     Active Substance: ACEBUTOLOL HYDROCHLORIDE
     Indication: Constipation
     Route: 065
  585. ACEBUTOLOL HYDROCHLORIDE [Suspect]
     Active Substance: ACEBUTOLOL HYDROCHLORIDE
     Indication: Chest pain
     Route: 065
  586. ACEBUTOLOL HYDROCHLORIDE [Suspect]
     Active Substance: ACEBUTOLOL HYDROCHLORIDE
     Indication: Angina pectoris
     Route: 065
  587. ACEBUTOLOL HYDROCHLORIDE [Suspect]
     Active Substance: ACEBUTOLOL HYDROCHLORIDE
     Indication: Chest pain
     Route: 065
  588. ACEBUTOLOL HYDROCHLORIDE [Suspect]
     Active Substance: ACEBUTOLOL HYDROCHLORIDE
     Indication: Hypertension
     Route: 065
  589. ACEBUTOLOL HYDROCHLORIDE [Suspect]
     Active Substance: ACEBUTOLOL HYDROCHLORIDE
     Indication: Constipation
     Route: 065
  590. ACETAMINOPHEN [Suspect]
     Active Substance: ACETAMINOPHEN
     Indication: Pain
     Route: 065
  591. ACETAMINOPHEN\CAFFEINE [Suspect]
     Active Substance: ACETAMINOPHEN\CAFFEINE
     Indication: Coronary artery disease
     Route: 065
  592. ACETAMINOPHEN\CAFFEINE [Suspect]
     Active Substance: ACETAMINOPHEN\CAFFEINE
     Indication: Angina pectoris
     Route: 065
  593. ACETAMINOPHEN\CAFFEINE [Suspect]
     Active Substance: ACETAMINOPHEN\CAFFEINE
     Indication: Pain
     Route: 065
  594. ACETAMINOPHEN\CAFFEINE [Suspect]
     Active Substance: ACETAMINOPHEN\CAFFEINE
     Indication: Hypertension
     Route: 065
  595. ACETAMINOPHEN\CAFFEINE [Suspect]
     Active Substance: ACETAMINOPHEN\CAFFEINE
     Indication: Chest pain
     Route: 065
  596. ACETAMINOPHEN\CAFFEINE [Suspect]
     Active Substance: ACETAMINOPHEN\CAFFEINE
     Indication: Angina pectoris
     Route: 065
  597. ACETAMINOPHEN\CAFFEINE [Suspect]
     Active Substance: ACETAMINOPHEN\CAFFEINE
     Indication: Hypertension
     Route: 065
  598. ASPIRIN [Suspect]
     Active Substance: ASPIRIN
     Indication: Coronary artery disease
     Route: 065
  599. ASPIRIN [Suspect]
     Active Substance: ASPIRIN
     Indication: Angina pectoris
     Route: 065
  600. AGGRENOX [Suspect]
     Active Substance: ASPIRIN\DIPYRIDAMOLE
     Indication: Cerebrovascular accident
     Dosage: CAPSULE (IMMEDIATE AND EXTENDED RELEASE)
     Route: 065
  601. AGGRENOX [Suspect]
     Active Substance: ASPIRIN\DIPYRIDAMOLE
     Indication: Cerebrovascular accident
     Dosage: CAPSULE (IMMEDIATE AND EXTENDED RELEASE)
     Route: 065
  602. AGGRENOX [Suspect]
     Active Substance: ASPIRIN\DIPYRIDAMOLE
     Indication: Cerebrovascular accident
     Route: 065
  603. AMITRIPTYLINE HYDROCHLORIDE [Suspect]
     Active Substance: AMITRIPTYLINE HYDROCHLORIDE
     Indication: Prophylaxis
     Route: 065
  604. AMITRIPTYLINE HYDROCHLORIDE [Suspect]
     Active Substance: AMITRIPTYLINE HYDROCHLORIDE
     Indication: Fibromyalgia
     Route: 065
  605. AMITRIPTYLINE HYDROCHLORIDE [Suspect]
     Active Substance: AMITRIPTYLINE HYDROCHLORIDE
     Indication: Coronary artery disease
     Route: 065
  606. AMITRIPTYLINE HYDROCHLORIDE [Suspect]
     Active Substance: AMITRIPTYLINE HYDROCHLORIDE
     Indication: Thyroid disorder
     Route: 065
  607. AMITRIPTYLINE HYDROCHLORIDE [Suspect]
     Active Substance: AMITRIPTYLINE HYDROCHLORIDE
     Indication: Oedema
     Route: 065
  608. AMITRIPTYLINE HYDROCHLORIDE [Suspect]
     Active Substance: AMITRIPTYLINE HYDROCHLORIDE
     Indication: Oedema
     Route: 065
  609. AMITRIPTYLINE HYDROCHLORIDE [Suspect]
     Active Substance: AMITRIPTYLINE HYDROCHLORIDE
     Indication: Radioactive iodine therapy
     Route: 065
  610. AMITRIPTYLINE HYDROCHLORIDE [Suspect]
     Active Substance: AMITRIPTYLINE HYDROCHLORIDE
     Indication: Insomnia
     Route: 065
  611. AMITRIPTYLINE HYDROCHLORIDE [Suspect]
     Active Substance: AMITRIPTYLINE HYDROCHLORIDE
     Indication: Angina pectoris
     Route: 065
  612. AMITRIPTYLINE HYDROCHLORIDE [Suspect]
     Active Substance: AMITRIPTYLINE HYDROCHLORIDE
     Indication: Thyroid disorder
     Route: 048
  613. AMITRIPTYLINE HYDROCHLORIDE [Suspect]
     Active Substance: AMITRIPTYLINE HYDROCHLORIDE
     Indication: Insomnia
     Route: 048
  614. AMLODIPINE BESYLATE [Suspect]
     Active Substance: AMLODIPINE BESYLATE
     Indication: Constipation
     Route: 065
  615. AMLODIPINE BESYLATE [Suspect]
     Active Substance: AMLODIPINE BESYLATE
     Indication: Chest pain
     Route: 065
  616. AMLODIPINE BESYLATE [Suspect]
     Active Substance: AMLODIPINE BESYLATE
     Indication: Constipation
     Route: 065
  617. AMLODIPINE BESYLATE [Suspect]
     Active Substance: AMLODIPINE BESYLATE
     Indication: Chest pain
     Route: 065
  618. AMLODIPINE BESYLATE [Suspect]
     Active Substance: AMLODIPINE BESYLATE
     Indication: Angina pectoris
     Route: 065
  619. AMLODIPINE BESYLATE [Suspect]
     Active Substance: AMLODIPINE BESYLATE
     Indication: Angina pectoris
     Route: 065
  620. CARBAMAZEPINE [Suspect]
     Active Substance: CARBAMAZEPINE
     Indication: Prophylaxis
     Route: 065
  621. DILTIAZEM HYDROCHLORIDE [Suspect]
     Active Substance: DILTIAZEM HYDROCHLORIDE
     Indication: Angina pectoris
     Route: 065
  622. DILTIAZEM HYDROCHLORIDE [Suspect]
     Active Substance: DILTIAZEM HYDROCHLORIDE
     Indication: Angina pectoris
     Route: 065
  623. DILTIAZEM HYDROCHLORIDE [Suspect]
     Active Substance: DILTIAZEM HYDROCHLORIDE
     Indication: Coronary artery disease
     Route: 065
  624. ASPIRIN [Suspect]
     Active Substance: ASPIRIN
     Indication: Hypertension
     Route: 065
  625. ASPIRIN [Suspect]
     Active Substance: ASPIRIN
     Indication: Product used for unknown indication
     Route: 065
  626. ASPIRIN [Suspect]
     Active Substance: ASPIRIN
     Indication: Hypertension
     Route: 065
  627. CARBAMAZEPINE [Suspect]
     Active Substance: CARBAMAZEPINE
     Indication: Fibromyalgia
     Route: 065
  628. CARBAMAZEPINE [Suspect]
     Active Substance: CARBAMAZEPINE
     Indication: Seizure
     Route: 065
  629. CYCLOBENZAPRINE [Suspect]
     Active Substance: CYCLOBENZAPRINE
     Indication: Seizure prophylaxis
     Route: 065
  630. CYCLOBENZAPRINE [Suspect]
     Active Substance: CYCLOBENZAPRINE
     Indication: Pain
     Route: 065
  631. CYCLOBENZAPRINE [Suspect]
     Active Substance: CYCLOBENZAPRINE
     Indication: Fibromyalgia
     Route: 065
  632. CYCLOBENZAPRINE [Suspect]
     Active Substance: CYCLOBENZAPRINE
     Indication: Seizure
     Route: 065
  633. CYCLOBENZAPRINE [Suspect]
     Active Substance: CYCLOBENZAPRINE
     Indication: Pain
     Route: 065
  634. CYCLOBENZAPRINE [Suspect]
     Active Substance: CYCLOBENZAPRINE
     Indication: Pain
     Route: 065
  635. CYCLOBENZAPRINE [Suspect]
     Active Substance: CYCLOBENZAPRINE
     Indication: Seizure prophylaxis
     Route: 065
  636. CYCLOBENZAPRINE [Suspect]
     Active Substance: CYCLOBENZAPRINE
     Indication: Pain
     Route: 065
  637. CYCLOBENZAPRINE [Suspect]
     Active Substance: CYCLOBENZAPRINE
     Indication: Fibromyalgia
     Route: 065
  638. CYCLOBENZAPRINE [Suspect]
     Active Substance: CYCLOBENZAPRINE
     Indication: Seizure
     Route: 065
  639. CYCLOBENZAPRINE [Suspect]
     Active Substance: CYCLOBENZAPRINE
     Indication: Fibromyalgia
     Route: 065
  640. CYCLOBENZAPRINE [Suspect]
     Active Substance: CYCLOBENZAPRINE
     Indication: Seizure prophylaxis
     Route: 065
  641. CYCLOBENZAPRINE [Suspect]
     Active Substance: CYCLOBENZAPRINE
     Indication: Pain
     Route: 065
  642. CYCLOBENZAPRINE [Suspect]
     Active Substance: CYCLOBENZAPRINE
     Indication: Fibromyalgia
     Route: 065
  643. CYCLOBENZAPRINE [Suspect]
     Active Substance: CYCLOBENZAPRINE
     Indication: Seizure prophylaxis
     Route: 065
  644. CYCLOBENZAPRINE [Suspect]
     Active Substance: CYCLOBENZAPRINE
     Indication: Pain
     Route: 065
  645. CYCLOBENZAPRINE HYDROCHLORIDE [Suspect]
     Active Substance: CYCLOBENZAPRINE HYDROCHLORIDE
     Indication: Fibromyalgia
     Route: 065
  646. CYCLOBENZAPRINE HYDROCHLORIDE [Suspect]
     Active Substance: CYCLOBENZAPRINE HYDROCHLORIDE
     Indication: Fibromyalgia
     Route: 065
  647. CYCLOBENZAPRINE HYDROCHLORIDE [Suspect]
     Active Substance: CYCLOBENZAPRINE HYDROCHLORIDE
     Indication: Fibromyalgia
     Route: 065
  648. DILTIAZEM [Suspect]
     Active Substance: DILTIAZEM
     Indication: Chest pain
     Route: 065
  649. DILTIAZEM [Suspect]
     Active Substance: DILTIAZEM
     Indication: Coronary artery disease
     Route: 065
  650. DILTIAZEM [Suspect]
     Active Substance: DILTIAZEM
     Indication: Chest pain
     Route: 065
  651. DILTIAZEM [Suspect]
     Active Substance: DILTIAZEM
     Indication: Chest pain
     Route: 065
  652. DIPYRIDAMOLE [Suspect]
     Active Substance: DIPYRIDAMOLE
     Indication: Cerebrovascular accident
     Route: 065
  653. DULCOLAX NOS [Suspect]
     Active Substance: BISACODYL OR DOCUSATE SODIUM
     Indication: Constipation
     Route: 065
  654. FUROSEMIDE [Suspect]
     Active Substance: FUROSEMIDE
     Indication: Chest pain
     Route: 061
  655. FUROSEMIDE [Suspect]
     Active Substance: FUROSEMIDE
     Indication: Coronary artery disease
     Route: 065
  656. FUROSEMIDE [Suspect]
     Active Substance: FUROSEMIDE
     Indication: Chest pain
     Route: 065
  657. FUROSEMIDE [Suspect]
     Active Substance: FUROSEMIDE
     Indication: Chest pain
     Route: 065
  658. FUROSEMIDE [Suspect]
     Active Substance: FUROSEMIDE
     Indication: Chest pain
     Route: 065
  659. GLUCOSAMINE [Suspect]
     Active Substance: GLUCOSAMINE
     Indication: Arthritis
     Route: 065
  660. GLUCOSAMINE [Suspect]
     Active Substance: GLUCOSAMINE
     Indication: Arthritis
     Route: 065
  661. NITROGLYCERIN [Suspect]
     Active Substance: NITROGLYCERIN
     Indication: Coronary artery disease
     Route: 065
  662. LACTULOSE [Suspect]
     Active Substance: LACTULOSE
     Indication: Constipation
     Route: 048
  663. LACTULOSE [Suspect]
     Active Substance: LACTULOSE
     Indication: Constipation
     Route: 065
  664. LACTULOSE [Suspect]
     Active Substance: LACTULOSE
     Indication: Constipation
     Route: 065
  665. LEVOFLOXACIN [Suspect]
     Active Substance: LEVOFLOXACIN
     Indication: Urinary tract infection
     Route: 065
  666. LEVOTHYROXINE SODIUM [Suspect]
     Active Substance: LEVOTHYROXINE SODIUM
     Indication: Radioactive iodine therapy
     Route: 065
  667. LEVOTHYROXINE SODIUM [Suspect]
     Active Substance: LEVOTHYROXINE SODIUM
     Indication: Thyroid disorder
     Route: 065
  668. LEVOTHYROXINE SODIUM [Suspect]
     Active Substance: LEVOTHYROXINE SODIUM
     Indication: Thyroid disorder
     Route: 065
  669. LEVOTHYROXINE SODIUM [Suspect]
     Active Substance: LEVOTHYROXINE SODIUM
     Indication: Radioactive iodine therapy
     Route: 065
  670. MORPHINE SULFATE [Suspect]
     Active Substance: MORPHINE SULFATE
     Indication: Pain
     Dosage: LIQUID
     Route: 030
  671. MORPHINE SULFATE [Suspect]
     Active Substance: MORPHINE SULFATE
     Indication: Fibromyalgia
     Dosage: LIQUID
     Route: 065
  672. MORPHINE SULFATE [Suspect]
     Active Substance: MORPHINE SULFATE
     Indication: Fibromyalgia
     Dosage: LIQUID
     Route: 065
  673. OMEPRAZOLE [Suspect]
     Active Substance: OMEPRAZOLE
     Indication: Hypertension
     Route: 048
  674. OMEPRAZOLE [Suspect]
     Active Substance: OMEPRAZOLE
     Indication: Duodenal ulcer
     Route: 048
  675. OXAZEPAM [Suspect]
     Active Substance: OXAZEPAM
     Indication: Hypertension
     Route: 048
  676. OXAZEPAM [Suspect]
     Active Substance: OXAZEPAM
     Indication: Angina pectoris
     Route: 048
  677. OXAZEPAM [Suspect]
     Active Substance: OXAZEPAM
     Indication: Angina pectoris
     Route: 048
  678. QUINAPRIL HYDROCHLORIDE [Suspect]
     Active Substance: QUINAPRIL HYDROCHLORIDE
     Indication: Coronary artery disease
     Route: 065
  679. QUINAPRIL HYDROCHLORIDE [Suspect]
     Active Substance: QUINAPRIL HYDROCHLORIDE
     Indication: Angina pectoris
     Route: 065
  680. QUINAPRIL HYDROCHLORIDE [Suspect]
     Active Substance: QUINAPRIL HYDROCHLORIDE
     Indication: Coronary artery disease
     Route: 065
  681. ROSUVASTATIN CALCIUM [Suspect]
     Active Substance: ROSUVASTATIN CALCIUM
     Indication: Chest pain
     Route: 065
  682. ROSUVASTATIN CALCIUM [Suspect]
     Active Substance: ROSUVASTATIN CALCIUM
     Indication: Chronic obstructive pulmonary disease
     Route: 065
  683. ROSUVASTATIN CALCIUM [Suspect]
     Active Substance: ROSUVASTATIN CALCIUM
     Indication: Chest pain
     Route: 065
  684. ROSUVASTATIN CALCIUM [Suspect]
     Active Substance: ROSUVASTATIN CALCIUM
     Indication: Angina pectoris
     Route: 065
  685. ROSUVASTATIN CALCIUM [Suspect]
     Active Substance: ROSUVASTATIN CALCIUM
     Indication: Insomnia
     Route: 048
  686. ROSUVASTATIN CALCIUM [Suspect]
     Active Substance: ROSUVASTATIN CALCIUM
     Indication: Hypertension
     Route: 048
  687. ROSUVASTATIN CALCIUM [Suspect]
     Active Substance: ROSUVASTATIN CALCIUM
     Indication: Chronic obstructive pulmonary disease
     Route: 048
  688. ROSUVASTATIN CALCIUM [Suspect]
     Active Substance: ROSUVASTATIN CALCIUM
     Indication: Angina pectoris
     Route: 048
  689. ROSUVASTATIN CALCIUM [Suspect]
     Active Substance: ROSUVASTATIN CALCIUM
     Indication: Hypertension
     Route: 048
  690. ROSUVASTATIN CALCIUM [Suspect]
     Active Substance: ROSUVASTATIN CALCIUM
     Indication: Coronary artery disease
     Route: 048
  691. ROSUVASTATIN CALCIUM [Suspect]
     Active Substance: ROSUVASTATIN CALCIUM
     Indication: Cerebrovascular accident
     Route: 048
  692. ROSUVASTATIN CALCIUM [Suspect]
     Active Substance: ROSUVASTATIN CALCIUM
     Indication: Insomnia
     Route: 065
  693. ROSUVASTATIN CALCIUM [Suspect]
     Active Substance: ROSUVASTATIN CALCIUM
     Indication: Angina pectoris
     Route: 065
  694. ALBUTEROL [Suspect]
     Active Substance: ALBUTEROL
     Indication: Angina pectoris
     Route: 065
  695. ALBUTEROL [Suspect]
     Active Substance: ALBUTEROL
     Indication: Hypertension
     Route: 065
  696. ALBUTEROL [Suspect]
     Active Substance: ALBUTEROL
     Indication: Angina pectoris
     Route: 065
  697. ALBUTEROL [Suspect]
     Active Substance: ALBUTEROL
     Indication: Hypertension
     Route: 065
  698. ALBUTEROL [Suspect]
     Active Substance: ALBUTEROL
     Indication: Chest pain
     Route: 065
  699. ALBUTEROL [Suspect]
     Active Substance: ALBUTEROL
     Indication: Chest pain
     Route: 065
  700. ALBUTEROL [Suspect]
     Active Substance: ALBUTEROL
     Indication: Coronary artery disease
     Route: 065
  701. SPIRIVA [Suspect]
     Active Substance: TIOTROPIUM BROMIDE MONOHYDRATE
     Indication: Chronic obstructive pulmonary disease
     Route: 065
  702. TIOTROPIUM BROMIDE [Suspect]
     Active Substance: TIOTROPIUM BROMIDE
     Indication: Chronic obstructive pulmonary disease
     Route: 048
  703. TIOTROPIUM BROMIDE [Suspect]
     Active Substance: TIOTROPIUM BROMIDE
     Indication: Product used for unknown indication
     Route: 065
  704. TIOTROPIUM BROMIDE [Suspect]
     Active Substance: TIOTROPIUM BROMIDE
     Indication: Chronic obstructive pulmonary disease
     Route: 065
  705. TIOTROPIUM BROMIDE [Suspect]
     Active Substance: TIOTROPIUM BROMIDE
     Indication: Product used for unknown indication
     Route: 065
  706. TIOTROPIUM BROMIDE [Suspect]
     Active Substance: TIOTROPIUM BROMIDE
     Indication: Chronic obstructive pulmonary disease
     Route: 065
  707. ACETAMINOPHEN [Concomitant]
     Active Substance: ACETAMINOPHEN
     Indication: Arthralgia
     Route: 065
  708. AMITRIPTYLINE [Suspect]
     Active Substance: AMITRIPTYLINE
     Indication: Radioactive iodine therapy
     Route: 065
  709. AMITRIPTYLINE [Suspect]
     Active Substance: AMITRIPTYLINE
     Indication: Duodenal ulcer
     Route: 065
  710. AMITRIPTYLINE [Suspect]
     Active Substance: AMITRIPTYLINE
     Indication: Coronary artery disease
     Route: 065
  711. AMITRIPTYLINE [Suspect]
     Active Substance: AMITRIPTYLINE
     Indication: Constipation
     Route: 065
  712. AMITRIPTYLINE [Suspect]
     Active Substance: AMITRIPTYLINE
     Indication: Angina pectoris
     Route: 065
  713. AMITRIPTYLINE [Suspect]
     Active Substance: AMITRIPTYLINE
     Indication: Thyroid disorder
     Route: 065
  714. AMITRIPTYLINE [Suspect]
     Active Substance: AMITRIPTYLINE
     Indication: Duodenal ulcer
     Route: 065
  715. AMITRIPTYLINE [Suspect]
     Active Substance: AMITRIPTYLINE
     Indication: Dementia
     Route: 065
  716. AMITRIPTYLINE [Suspect]
     Active Substance: AMITRIPTYLINE
     Indication: Radioactive iodine therapy
     Route: 065
  717. AMITRIPTYLINE [Suspect]
     Active Substance: AMITRIPTYLINE
     Indication: Oedema
     Route: 065
  718. AMITRIPTYLINE [Suspect]
     Active Substance: AMITRIPTYLINE
     Indication: Hypertension
     Route: 065
  719. AMITRIPTYLINE [Suspect]
     Active Substance: AMITRIPTYLINE
     Indication: Angina pectoris
     Route: 065
  720. AMITRIPTYLINE [Suspect]
     Active Substance: AMITRIPTYLINE
     Indication: Fibromyalgia
     Route: 048
  721. AMITRIPTYLINE [Suspect]
     Active Substance: AMITRIPTYLINE
     Indication: Coronary artery disease
     Route: 048
  722. AMLODIPINE [Suspect]
     Active Substance: AMLODIPINE BESYLATE
     Indication: Coronary artery disease
     Route: 065
  723. AMLODIPINE [Suspect]
     Active Substance: AMLODIPINE BESYLATE
     Indication: Angina pectoris
     Route: 065
  724. AMLODIPINE [Suspect]
     Active Substance: AMLODIPINE BESYLATE
     Indication: Product used for unknown indication
     Route: 065
  725. AMLODIPINE [Suspect]
     Active Substance: AMLODIPINE BESYLATE
     Indication: Angina pectoris
     Route: 065
  726. ACEBUTOLOL HYDROCHLORIDE [Suspect]
     Active Substance: ACEBUTOLOL HYDROCHLORIDE
     Indication: Product used for unknown indication
     Route: 065
  727. ACEBUTOLOL HYDROCHLORIDE [Suspect]
     Active Substance: ACEBUTOLOL HYDROCHLORIDE
     Indication: Hypertension
     Route: 065
  728. ACEBUTOLOL HYDROCHLORIDE [Suspect]
     Active Substance: ACEBUTOLOL HYDROCHLORIDE
     Indication: Coronary artery disease
     Route: 065
  729. ACEBUTOLOL HYDROCHLORIDE [Suspect]
     Active Substance: ACEBUTOLOL HYDROCHLORIDE
     Indication: Hypertension
     Route: 065
  730. ACEBUTOLOL HYDROCHLORIDE [Suspect]
     Active Substance: ACEBUTOLOL HYDROCHLORIDE
     Indication: Constipation
     Route: 065
  731. ACEBUTOLOL HYDROCHLORIDE [Suspect]
     Active Substance: ACEBUTOLOL HYDROCHLORIDE
     Indication: Product used for unknown indication
     Route: 065
  732. ACEBUTOLOL HYDROCHLORIDE [Suspect]
     Active Substance: ACEBUTOLOL HYDROCHLORIDE
     Indication: Coronary artery disease
     Route: 065
  733. ACEBUTOLOL HYDROCHLORIDE [Suspect]
     Active Substance: ACEBUTOLOL HYDROCHLORIDE
     Indication: Chest pain
     Route: 065
  734. ACEBUTOLOL HYDROCHLORIDE [Suspect]
     Active Substance: ACEBUTOLOL HYDROCHLORIDE
     Indication: Angina pectoris
     Route: 065
  735. ACEBUTOLOL HYDROCHLORIDE [Suspect]
     Active Substance: ACEBUTOLOL HYDROCHLORIDE
     Indication: Hypertension
     Route: 065
  736. ACEBUTOLOL HYDROCHLORIDE [Suspect]
     Active Substance: ACEBUTOLOL HYDROCHLORIDE
     Indication: Chest pain
     Route: 065
  737. ACEBUTOLOL HYDROCHLORIDE [Suspect]
     Active Substance: ACEBUTOLOL HYDROCHLORIDE
     Indication: Hypertension
     Route: 065
  738. ACEBUTOLOL HYDROCHLORIDE [Suspect]
     Active Substance: ACEBUTOLOL HYDROCHLORIDE
     Indication: Coronary artery disease
     Route: 065
  739. ACEBUTOLOL HYDROCHLORIDE [Suspect]
     Active Substance: ACEBUTOLOL HYDROCHLORIDE
     Indication: Constipation
     Route: 065
  740. AGGRENOX [Suspect]
     Active Substance: ASPIRIN\DIPYRIDAMOLE
     Indication: Cerebrovascular accident
     Route: 065
  741. CYCLOBENZAPRINE HYDROCHLORIDE [Suspect]
     Active Substance: CYCLOBENZAPRINE HYDROCHLORIDE
     Indication: Pain
     Route: 065
  742. DILTIAZEM HYDROCHLORIDE [Suspect]
     Active Substance: DILTIAZEM HYDROCHLORIDE
     Indication: Hypertension
     Route: 065
  743. DILTIAZEM HYDROCHLORIDE [Suspect]
     Active Substance: DILTIAZEM HYDROCHLORIDE
     Indication: Angina pectoris
     Route: 065
  744. PERSANTINE [Suspect]
     Active Substance: DIPYRIDAMOLE
     Indication: Cerebrovascular accident
     Route: 065
  745. CRANBERRY [Suspect]
     Active Substance: CRANBERRY
     Indication: Product used for unknown indication
     Route: 065

REACTIONS (14)
  - Balance disorder [Recovered/Resolved]
  - Blood calcium decreased [Recovered/Resolved]
  - Cognitive disorder [Recovered/Resolved]
  - Creatinine renal clearance decreased [Recovered/Resolved]
  - Depressed level of consciousness [Recovered/Resolved]
  - Fall [Recovered/Resolved]
  - Hypotension [Recovered/Resolved]
  - Mobility decreased [Recovered/Resolved]
  - Orthostatic hypotension [Recovered/Resolved]
  - Pain [Recovered/Resolved]
  - Sedation [Recovered/Resolved]
  - Sedation complication [Recovered/Resolved]
  - Toxicity to various agents [Recovered/Resolved]
  - Constipation [Recovered/Resolved]
